FAERS Safety Report 22837650 (Version 8)
Quarter: 2024Q3

REPORT INFORMATION
  Report Type: Spontaneous
  Country: DE (occurrence: DE)
  Receive Date: 20230818
  Receipt Date: 20240911
  Transmission Date: 20241017
  Serious: Yes (Death, Life-Threatening, Hospitalization, Disabling, Congenital Anomaly, Other)
  Sender: AMERICAN REGENT
  Company Number: DE-AMERICAN REGENT INC-2023001907

PATIENT
  Age: 80 Year
  Sex: Male
  Weight: 69 kg

DRUGS (591)
  1. FERINJECT [Suspect]
     Active Substance: FERRIC CARBOXYMALTOSE
     Indication: Iron deficiency
     Dosage: UNK, 1 EVERY 6 HOURS
     Route: 042
  2. VENOFER [Suspect]
     Active Substance: IRON SUCROSE
     Indication: Iron deficiency
     Dosage: UNK, 1 EVERY 6 HOURS
     Route: 042
  3. IRON POLYMALTOSE [Suspect]
     Active Substance: IRON POLYMALTOSE
     Indication: Iron deficiency
     Dosage: UNK, 1 EVERY 6 HOURS
     Route: 065
  4. IRON POLYMALTOSE [Suspect]
     Active Substance: IRON POLYMALTOSE
     Dosage: UNK
     Route: 065
  5. FERROUS FUMARATE [Suspect]
     Active Substance: FERROUS FUMARATE
     Indication: Iron deficiency
     Dosage: UNK, 1 EVERY 6 HOURS
     Route: 065
  6. FERROUS FUMARATE [Suspect]
     Active Substance: FERROUS FUMARATE
     Dosage: UNK
     Route: 065
  7. SOLUBLE FIBER [Suspect]
     Active Substance: METHYLCELLULOSE (4000 CPS)
     Indication: Vitamin supplementation
     Dosage: 5 MILLIGRAM, QD
     Route: 065
  8. SOLUBLE FIBER [Suspect]
     Active Substance: METHYLCELLULOSE (4000 CPS)
     Dosage: 5 MILLIGRAM 1 EVERY 1 DAYS INTRAVENOUS
     Route: 042
  9. PENTOSAN POLYSULFATE SODIUM [Suspect]
     Active Substance: PENTOSAN POLYSULFATE SODIUM
     Indication: Anticoagulant therapy
     Dosage: 250 MILLILITER, 1 EVERY 1 DAYS
     Route: 065
  10. PENTOSAN POLYSULFATE SODIUM [Suspect]
     Active Substance: PENTOSAN POLYSULFATE SODIUM
     Dosage: 50 MILLILITER, 1 EVERY 1 DAYS
     Route: 065
  11. CEFTRIAXONE [Suspect]
     Active Substance: CEFTRIAXONE\CEFTRIAXONE SODIUM
     Indication: Bacterial infection
     Dosage: 2 GRAM, 1 DOSE PER 1 D
     Route: 042
  12. CEFTRIAXONE [Suspect]
     Active Substance: CEFTRIAXONE\CEFTRIAXONE SODIUM
     Dosage: 2 MILLIGRAM
     Route: 065
  13. CEFTRIAXONE [Suspect]
     Active Substance: CEFTRIAXONE\CEFTRIAXONE SODIUM
     Dosage: UNK
     Route: 065
  14. CEFTRIAXONE [Suspect]
     Active Substance: CEFTRIAXONE\CEFTRIAXONE SODIUM
     Dosage: 2 GRAM, 1 DOSE PER 1 D (1 IN 1 D)
     Route: 065
  15. FIASP [Suspect]
     Active Substance: INSULIN ASPART
     Indication: Diabetes mellitus
     Dosage: UNK
     Route: 048
  16. FIASP [Suspect]
     Active Substance: INSULIN ASPART
     Dosage: UNK
     Route: 058
  17. NOVORAPID [Suspect]
     Active Substance: INSULIN ASPART
     Indication: Diabetes mellitus
     Dosage: UNK
     Route: 065
  18. NOVORAPID [Suspect]
     Active Substance: INSULIN ASPART
     Dosage: UNK
     Route: 058
  19. NOVORAPID [Suspect]
     Active Substance: INSULIN ASPART
     Dosage: UNK
     Route: 048
  20. SODIUM PHOSPHATE, MONOBASIC [Suspect]
     Active Substance: SODIUM PHOSPHATE, MONOBASIC
     Indication: Constipation
     Dosage: 133 MILLILITER, AS NECESSARY
     Route: 065
  21. SODIUM PHOSPHATE, MONOBASIC [Suspect]
     Active Substance: SODIUM PHOSPHATE, MONOBASIC
     Dosage: 133 MILLILITER, AS NECESSARY
     Route: 054
  22. FOSRENOL [Suspect]
     Active Substance: LANTHANUM CARBONATE
     Indication: Blood phosphorus increased
     Dosage: 500 MILLIGRAM, AS NECESSARY
     Route: 048
  23. FOSRENOL [Suspect]
     Active Substance: LANTHANUM CARBONATE
     Indication: Hyperphosphataemia
     Dosage: 500 MILLIGRAM, 1 EVERY 1 DAYS ORAL
     Route: 048
  24. FOSRENOL [Suspect]
     Active Substance: LANTHANUM CARBONATE
     Dosage: UNK
     Route: 065
  25. FOSRENOL [Suspect]
     Active Substance: LANTHANUM CARBONATE
     Dosage: 550 MILLIGRAM, 1 DOSE PER 1 D
     Route: 048
  26. FOSRENOL [Suspect]
     Active Substance: LANTHANUM CARBONATE
     Dosage: 550 MILLIGRAM
     Route: 048
  27. ATROVENT [Suspect]
     Active Substance: IPRATROPIUM BROMIDE
     Indication: Dyspnoea
     Dosage: QID, 6 HOURS, INHALATION (1 IN 6 HOURS)
     Route: 055
  28. ATROVENT [Suspect]
     Active Substance: IPRATROPIUM BROMIDE
     Indication: Sleep disorder therapy
     Dosage: UNK, 4 DOSE PER 1 D (4 DOSAGE FORMS,4 IN 1 D)
     Route: 050
  29. ATROVENT [Suspect]
     Active Substance: IPRATROPIUM BROMIDE
     Indication: Somnolence
     Dosage: 1 DOSAGE FORM, 1 EVERY 6 HOURS (1 DOSAGE FORMS,1 IN 6 HR)
     Route: 055
  30. ATROVENT [Suspect]
     Active Substance: IPRATROPIUM BROMIDE
     Dosage: 4 DOSAGE FORMS
     Route: 055
  31. ATROVENT [Suspect]
     Active Substance: IPRATROPIUM BROMIDE
     Dosage: 1 DOSAGE FORM, 1 DOSE PER 4D (1 DOSAGE FORMS,1 IN 4 D)
     Route: 050
  32. ATROVENT [Suspect]
     Active Substance: IPRATROPIUM BROMIDE
     Dosage: UNK
     Route: 065
  33. ATROVENT [Suspect]
     Active Substance: IPRATROPIUM BROMIDE
     Dosage: UNK, 1 DOSE PER 1 D (1 DOSAGE FORMS,1 IN 1 D)
     Route: 050
  34. ATROVENT [Suspect]
     Active Substance: IPRATROPIUM BROMIDE
     Dosage: UNK, 1 EVERY 8 HOURS (1 IN 8 HR)
     Route: 050
  35. ATROVENT [Suspect]
     Active Substance: IPRATROPIUM BROMIDE
     Dosage: UNK, 4 DOSE PER 1 D (4 DOSAGE FORMS,4 IN 1 D)
     Route: 055
  36. ATROVENT [Suspect]
     Active Substance: IPRATROPIUM BROMIDE
     Dosage: 1 DOSAGE FORM, 3 DOSE PER 1D (3 DOSAGE FORMS,3 IN 1 D)
     Route: 050
  37. ATROVENT [Suspect]
     Active Substance: IPRATROPIUM BROMIDE
     Dosage: UNK, 1 DOSE PER 1 D (1 DOSAGE FORMS,1 IN 1 D)
     Route: 055
  38. ONDANSETRON [Suspect]
     Active Substance: ONDANSETRON
     Indication: Nausea
     Dosage: 36 MILLIGRAM, 1 IN 8 HR IV
     Route: 042
  39. ONDANSETRON [Suspect]
     Active Substance: ONDANSETRON
     Indication: Vomiting
     Dosage: 1 DOSAGE FORM,  UNK
     Route: 065
  40. ONDANSETRON [Suspect]
     Active Substance: ONDANSETRON
     Dosage: 4 MILLIGRAM 1 DOSE PER 8HRS IV
     Route: 042
  41. ONDANSETRON [Suspect]
     Active Substance: ONDANSETRON
     Dosage: 36 MILLIGRAM 3 EVERY 1 DAYS IV
     Route: 042
  42. ONDANSETRON [Suspect]
     Active Substance: ONDANSETRON
     Dosage: 41.14 MILLIGRAM IV
     Route: 042
  43. ONDANSETRON [Suspect]
     Active Substance: ONDANSETRON
     Dosage: 24 MILLIGRAM, 1 IN 1 D IV
     Route: 042
  44. ONDANSETRON [Suspect]
     Active Substance: ONDANSETRON
     Dosage: 12 MILLIGRAM, Q8HR IV
     Route: 042
  45. ONDANSETRON [Suspect]
     Active Substance: ONDANSETRON
     Dosage: 40 MILLIGRAM, PER 8 HOURS (1 IN 8 HR)
     Route: 042
  46. ONDANSETRON [Suspect]
     Active Substance: ONDANSETRON
     Dosage: 40 MILLIGRAM, 1 IN 8 HR
     Route: 042
  47. ONDANSETRON [Suspect]
     Active Substance: ONDANSETRON
     Dosage: 41.14 MILLIGRAM, 1 IN 7 HR UNK
     Route: 042
  48. ONDANSETRON [Suspect]
     Active Substance: ONDANSETRON
     Dosage: 24 MILLIGRAM, 3 DOSE PER 1 D
     Route: 042
  49. ONDANSETRON [Suspect]
     Active Substance: ONDANSETRON
     Dosage: 1 DOSAGE FORM, 1 EVERY 8 HOURS
     Route: 065
  50. ONDANSETRON [Suspect]
     Active Substance: ONDANSETRON
     Dosage: 14.14 MILLIGRAM
     Route: 042
  51. ONDANSETRON [Suspect]
     Active Substance: ONDANSETRON
     Dosage: 8 MILLIGRAM, 3 DOSE PER 1 D
     Route: 042
  52. ONDANSETRON [Suspect]
     Active Substance: ONDANSETRON
     Dosage: UNK, 1 EVERY 8 HOURS
     Route: 065
  53. ONDANSETRON [Suspect]
     Active Substance: ONDANSETRON
     Dosage: 41.14 MILLIGRAM, 1 EVERY 8 HOURS
     Route: 042
  54. ONDANSETRON [Suspect]
     Active Substance: ONDANSETRON
     Dosage: 108 MILLIGRAM, 1 DOSE PER 1 D
     Route: 042
  55. ONDANSETRON [Suspect]
     Active Substance: ONDANSETRON
     Dosage: 4 MILLIGRAM, QD
     Route: 042
  56. ARANESP [Suspect]
     Active Substance: DARBEPOETIN ALFA
     Indication: Anaemia
     Dosage: 0.71 MCG, 1 IN 1 WK
     Route: 042
  57. ARANESP [Suspect]
     Active Substance: DARBEPOETIN ALFA
     Dosage: 1.42 MG
     Route: 042
  58. ARANESP [Suspect]
     Active Substance: DARBEPOETIN ALFA
     Dosage: ^10 MICROGRAM, Q2WEEKS (10 MG,1 IN 2 WK)^
     Route: 042
  59. ARANESP [Suspect]
     Active Substance: DARBEPOETIN ALFA
     Dosage: 0.71 MICROGRAM 1 DOSE PER 2 WK, 0.714 UG
     Route: 042
  60. ARANESP [Suspect]
     Active Substance: DARBEPOETIN ALFA
     Dosage: 0.714 MICROGRAM 1/WEEK (20 MCG)
     Route: 042
  61. ARANESP [Suspect]
     Active Substance: DARBEPOETIN ALFA
     Dosage: 10 MG 2 EVERY 1 WEEK IV
     Route: 042
  62. ARANESP [Suspect]
     Active Substance: DARBEPOETIN ALFA
     Dosage: 10 MICROGRAM, 2 EVERY 1 WEEKS IV (0.71 MCG 1 IN 1 WK)
     Route: 042
  63. ARANESP [Suspect]
     Active Substance: DARBEPOETIN ALFA
     Dosage: 10 MCG 2 EVERY 1 WEEK IV (20 MCG 1 IN 1 WK)
     Route: 042
  64. ARANESP [Suspect]
     Active Substance: DARBEPOETIN ALFA
     Dosage: 0.2 MICROGRAM 1 EVERY 1 WEEKS IV
     Route: 042
  65. ARANESP [Suspect]
     Active Substance: DARBEPOETIN ALFA
     Dosage: 10 MILLIGRAM, CYCLICAL (10 MG)
     Route: 042
  66. ARANESP [Suspect]
     Active Substance: DARBEPOETIN ALFA
     Dosage: 20 ML 1 DOSE PER 1 D
     Route: 042
  67. ARANESP [Suspect]
     Active Substance: DARBEPOETIN ALFA
     Dosage: 10 MILLIGRAM, 1 DOSE PER 2 DAY
     Route: 042
  68. ARANESP [Suspect]
     Active Substance: DARBEPOETIN ALFA
     Dosage: 0.75 MICROGRAM
     Route: 042
  69. ARANESP [Suspect]
     Active Substance: DARBEPOETIN ALFA
     Dosage: 0.71 MICROGRAM 1 DOSE PER 1D
     Route: 042
  70. ARANESP [Suspect]
     Active Substance: DARBEPOETIN ALFA
     Dosage: 1 DOSAGE FORM, 1 DOSE PER 1W (10 MCG)
     Route: 042
  71. ARANESP [Suspect]
     Active Substance: DARBEPOETIN ALFA
     Dosage: 10 MILLIGRAM, CYCLICAL (10 MCG)
     Route: 042
  72. ARANESP [Suspect]
     Active Substance: DARBEPOETIN ALFA
     Dosage: 1.42 MICROGRAM, 1 DOSE PER 1W
     Route: 065
  73. ARANESP [Suspect]
     Active Substance: DARBEPOETIN ALFA
     Dosage: 20 MILLILITER, 1 DOSE PER 1 WK
     Route: 042
  74. ARANESP [Suspect]
     Active Substance: DARBEPOETIN ALFA
     Dosage: 0.71 MCG IV (0.71 MCG, 1 IN 1 WK)
     Route: 042
  75. ARANESP [Suspect]
     Active Substance: DARBEPOETIN ALFA
     Dosage: 1.42 MG 1 DOSE PER 1 WK
     Route: 042
  76. ARANESP [Suspect]
     Active Substance: DARBEPOETIN ALFA
     Dosage: UNK
     Route: 042
  77. ARANESP [Suspect]
     Active Substance: DARBEPOETIN ALFA
     Dosage: 0.71 MICROGRAM IV (0.71 MCG, 1 IN 1WK)
     Route: 065
  78. ARANESP [Suspect]
     Active Substance: DARBEPOETIN ALFA
     Dosage: UNK
     Route: 065
  79. ARANESP [Suspect]
     Active Substance: DARBEPOETIN ALFA
     Dosage: 0.75 MILLIGRAM
     Route: 042
  80. ARANESP [Suspect]
     Active Substance: DARBEPOETIN ALFA
     Dosage: 0.71 MICROGRAM
     Route: 065
  81. ARANESP [Suspect]
     Active Substance: DARBEPOETIN ALFA
     Dosage: 20 MICROGRAM 1 EVERY 1 WK IV
     Route: 042
  82. ARANESP [Suspect]
     Active Substance: DARBEPOETIN ALFA
     Dosage: 10 MILLIGRAM, 1 DOSE PER 2W (10 MG,1 IN 2 WK)
     Route: 042
  83. ARANESP [Suspect]
     Active Substance: DARBEPOETIN ALFA
     Dosage: 0.71 MICROGRAM, 1 DOSE PER 2 WK, 0.714 UG QOW
     Route: 042
  84. ARANESP [Suspect]
     Active Substance: DARBEPOETIN ALFA
     Dosage: 1.42 MICROGRAM
     Route: 042
  85. ARANESP [Suspect]
     Active Substance: DARBEPOETIN ALFA
     Dosage: 10 MILLIGRAM 1 DOSE PER 1 WK
     Route: 042
  86. ARANESP [Suspect]
     Active Substance: DARBEPOETIN ALFA
     Dosage: 10 MILLIGRAM
     Route: 042
  87. ARANESP [Suspect]
     Active Substance: DARBEPOETIN ALFA
     Dosage: 1.42 MICROGRAM IV 1 EVERY 1 WEEK
     Route: 042
  88. ARANESP [Suspect]
     Active Substance: DARBEPOETIN ALFA
     Dosage: 20 MILLIGRAM 1 DOSE PER 1 WK
     Route: 065
  89. ARANESP [Suspect]
     Active Substance: DARBEPOETIN ALFA
     Dosage: 1.42 MICROGRAM IV
     Route: 042
  90. ARANESP [Suspect]
     Active Substance: DARBEPOETIN ALFA
     Dosage: 1.42 MICROGRAM, 1 DOSE PER 2 WK
     Route: 042
  91. ARANESP [Suspect]
     Active Substance: DARBEPOETIN ALFA
     Dosage: 1.42 MICROGRAM, 1 DOSE PER 2W (10 MG,1 IN 2 WK)
     Route: 065
  92. ARANESP [Suspect]
     Active Substance: DARBEPOETIN ALFA
     Dosage: 1 DOSAGE FORM, 1 DOSE PER 1W
     Route: 042
  93. ARANESP [Suspect]
     Active Substance: DARBEPOETIN ALFA
     Dosage: 0.71 MILLIGRAM, 2 DOSE PER 1 WK  (1.42 MG 1 IN 1WK)
     Route: 042
  94. ARANESP [Suspect]
     Active Substance: DARBEPOETIN ALFA
     Dosage: 1.42 MICROGRAM
     Route: 042
  95. ARANESP [Suspect]
     Active Substance: DARBEPOETIN ALFA
     Dosage: 0.71 MICROGRAM, 1 DOSE PER 2W, 0.714 UG, QOW
     Route: 065
  96. ARANESP [Suspect]
     Active Substance: DARBEPOETIN ALFA
     Dosage: 1 DOSE PER 2W
     Route: 042
  97. ARANESP [Suspect]
     Active Substance: DARBEPOETIN ALFA
     Dosage: 10 MICROGRAM, 1 DOSE PER 2W
     Route: 042
  98. ARANESP [Suspect]
     Active Substance: DARBEPOETIN ALFA
     Dosage: 1.42 MICROGRAM, 1 DOSE PER 1W
     Route: 042
  99. ARANESP [Suspect]
     Active Substance: DARBEPOETIN ALFA
     Dosage: 0.71 MILLIGRAM 1 DOSE PER 2 WK
     Route: 042
  100. ADVAIR HFA [Suspect]
     Active Substance: FLUTICASONE PROPIONATE\SALMETEROL XINAFOATE
     Indication: Product used for unknown indication
     Dosage: UNK
     Route: 065
  101. DALTEPARIN SODIUM [Suspect]
     Active Substance: DALTEPARIN SODIUM
     Indication: Pulmonary embolism
     Dosage: UNK
     Route: 065
  102. DALTEPARIN SODIUM [Suspect]
     Active Substance: DALTEPARIN SODIUM
     Dosage: 2.5 MILLILITER
     Route: 065
  103. DALTEPARIN SODIUM [Suspect]
     Active Substance: DALTEPARIN SODIUM
     Dosage: UNK
     Route: 065
  104. SODIUM FERRIC GLUCONATE COMPLEX [Suspect]
     Active Substance: SODIUM FERRIC GLUCONATE COMPLEX
     Indication: Iron deficiency
     Dosage: 17.85 MILLIGRAM
     Route: 042
  105. SODIUM FERRIC GLUCONATE COMPLEX [Suspect]
     Active Substance: SODIUM FERRIC GLUCONATE COMPLEX
     Dosage: 125 MILLIGRAM, 1 EVERY 1 MONTHS IV
     Route: 042
  106. SODIUM FERRIC GLUCONATE COMPLEX [Suspect]
     Active Substance: SODIUM FERRIC GLUCONATE COMPLEX
     Dosage: 4.64 MILLIGRAM, Q4WEEKS (18.56 MG,1 IN 4 WK)
     Route: 042
  107. SODIUM FERRIC GLUCONATE COMPLEX [Suspect]
     Active Substance: SODIUM FERRIC GLUCONATE COMPLEX
     Dosage: 125 MILLIGRAM, Q4 WEEKS
     Route: 042
  108. SODIUM FERRIC GLUCONATE COMPLEX [Suspect]
     Active Substance: SODIUM FERRIC GLUCONATE COMPLEX
     Dosage: UNK UNK, 1 DOSE PER 1W
     Route: 042
  109. SODIUM FERRIC GLUCONATE COMPLEX [Suspect]
     Active Substance: SODIUM FERRIC GLUCONATE COMPLEX
     Dosage: 1.25 MILLIGRAM, 1 DOSE PER 1W
     Route: 042
  110. SODIUM FERRIC GLUCONATE COMPLEX [Suspect]
     Active Substance: SODIUM FERRIC GLUCONATE COMPLEX
     Dosage: 125 MILLIGRAM 1 EVERY 1 MONTHS IV (500 MG,1 IN 1 M)
     Route: 042
  111. SODIUM FERRIC GLUCONATE COMPLEX [Suspect]
     Active Substance: SODIUM FERRIC GLUCONATE COMPLEX
     Dosage: 1.25 MILLIGRAM, 1 DOSE PER 1M
     Route: 042
  112. SODIUM FERRIC GLUCONATE COMPLEX [Suspect]
     Active Substance: SODIUM FERRIC GLUCONATE COMPLEX
     Dosage: 133 MILLILITER
     Route: 042
  113. SODIUM FERRIC GLUCONATE COMPLEX [Suspect]
     Active Substance: SODIUM FERRIC GLUCONATE COMPLEX
     Dosage: 4.64 MILLIGRAM
     Route: 042
  114. SODIUM FERRIC GLUCONATE COMPLEX [Suspect]
     Active Substance: SODIUM FERRIC GLUCONATE COMPLEX
     Dosage: 4.64 MILLIGRAM, 1 DOSE PER 4 WK
     Route: 042
  115. SODIUM FERRIC GLUCONATE COMPLEX [Suspect]
     Active Substance: SODIUM FERRIC GLUCONATE COMPLEX
     Dosage: 0.0387 MG (4.64 MG 1 IN 4 MONTH)
     Route: 042
  116. SODIUM FERRIC GLUCONATE COMPLEX [Suspect]
     Active Substance: SODIUM FERRIC GLUCONATE COMPLEX
     Dosage: 0.6629 MG (4.64 MG 1 IN 1 WK)
     Route: 042
  117. SODIUM FERRIC GLUCONATE COMPLEX [Suspect]
     Active Substance: SODIUM FERRIC GLUCONATE COMPLEX
     Dosage: UNK
     Route: 065
  118. CEFTRIAXONE SODIUM [Suspect]
     Active Substance: CEFTRIAXONE SODIUM
     Indication: Bacterial infection
     Dosage: 2 GRAM 1 EVERY 1 DAYS IV
     Route: 042
  119. CEFTRIAXONE SODIUM [Suspect]
     Active Substance: CEFTRIAXONE SODIUM
     Indication: Sepsis
     Dosage: 1500 MILLIGRAM
     Route: 065
  120. CEFTRIAXONE SODIUM [Suspect]
     Active Substance: CEFTRIAXONE SODIUM
     Dosage: 2 GRAM
     Route: 042
  121. CEFTRIAXONE SODIUM [Suspect]
     Active Substance: CEFTRIAXONE SODIUM
     Dosage: 2 GRAM
     Route: 042
  122. CEFTRIAXONE SODIUM [Suspect]
     Active Substance: CEFTRIAXONE SODIUM
     Dosage: UNK
     Route: 065
  123. MANNITOL [Suspect]
     Active Substance: MANNITOL
     Indication: Nutritional supplementation
     Dosage: UNK
     Route: 042
  124. MANNITOL [Suspect]
     Active Substance: MANNITOL
     Dosage: 12.5 GRAM IV
     Route: 042
  125. SODIUM CITRATE [Suspect]
     Active Substance: SODIUM CITRATE
     Indication: Thrombosis
     Dosage: 2.5 MILLIGRAM (2.5 ML)
     Route: 065
  126. SODIUM CITRATE [Suspect]
     Active Substance: SODIUM CITRATE
     Dosage: UNK
     Route: 065
  127. SODIUM CITRATE [Suspect]
     Active Substance: SODIUM CITRATE
     Dosage: 2.5 MILLIGRAM, QD (2.5 MG)
     Route: 065
  128. SODIUM CITRATE [Suspect]
     Active Substance: SODIUM CITRATE
     Dosage: UNK, AS REQUIRED
     Route: 065
  129. SODIUM CITRATE [Suspect]
     Active Substance: SODIUM CITRATE
     Dosage: 2.5 MILLILITER, AS NECESSARY (4GM/100ML SOLUTION UNASSIGNED)
     Route: 065
  130. DISTIGMINE BROMIDE [Suspect]
     Active Substance: DISTIGMINE BROMIDE
     Indication: Dyspnoea
     Dosage: UNK
     Route: 065
  131. DISTIGMINE BROMIDE [Suspect]
     Active Substance: DISTIGMINE BROMIDE
     Dosage: 1 INTERNATIONAL UNIT, DAILY
     Route: 048
  132. FENOTEROL\IPRATROPIUM [Suspect]
     Active Substance: FENOTEROL\IPRATROPIUM
     Indication: Dyspnoea
     Dosage: 1 DOSAGE FORM, TID
     Route: 065
  133. BETAMETHASONE DIPROPIONATE [Suspect]
     Active Substance: BETAMETHASONE DIPROPIONATE
     Indication: Swelling
     Dosage: 1 DOSE PER 1 D
     Route: 065
  134. BETAMETHASONE DIPROPIONATE [Suspect]
     Active Substance: BETAMETHASONE DIPROPIONATE
     Dosage: 1 DOSAGE FORM, 1 EVERY 1 DAYS SUBCUTANEOUS
     Route: 058
  135. BETAMETHASONE DIPROPIONATE [Suspect]
     Active Substance: BETAMETHASONE DIPROPIONATE
     Dosage: UNK, 1 DOSE PER 1 D
     Route: 061
  136. BETAMETHASONE DIPROPIONATE [Suspect]
     Active Substance: BETAMETHASONE DIPROPIONATE
     Dosage: UNK, TOPICAL
     Route: 061
  137. BETAMETHASONE DIPROPIONATE [Suspect]
     Active Substance: BETAMETHASONE DIPROPIONATE
     Dosage: 1 DOSAGE FORM 1 EVERY 1 DAYS INTRAVENOUS
     Route: 042
  138. BETAMETHASONE DIPROPIONATE [Suspect]
     Active Substance: BETAMETHASONE DIPROPIONATE
     Dosage: 10 MILLIGRAM, 1 EVERY 1 DAYS TOPICAL
     Route: 061
  139. BETAMETHASONE DIPROPIONATE [Suspect]
     Active Substance: BETAMETHASONE DIPROPIONATE
     Dosage: 1 DOSAGE FORM TOPICAL
     Route: 061
  140. FURAZOLIDONE [Suspect]
     Active Substance: FURAZOLIDONE
     Indication: Product used for unknown indication
     Dosage: 12.5 MILLIGRAM
     Route: 065
  141. FURAZOLIDONE [Suspect]
     Active Substance: FURAZOLIDONE
     Dosage: UNK
     Route: 065
  142. FURAZOLIDONE [Suspect]
     Active Substance: FURAZOLIDONE
     Dosage: 12.5 MILLIGRAM
     Route: 042
  143. VITAMIN K1 [Suspect]
     Active Substance: PHYTONADIONE
     Indication: Product used for unknown indication
     Dosage: 5 MILLIGRAM AS REQUIRED
     Route: 042
  144. VITAMIN K1 [Suspect]
     Active Substance: PHYTONADIONE
     Dosage: 5 MILLIGRAM, 1 DOSE PER 1 D
     Route: 042
  145. VITAMIN K1 [Suspect]
     Active Substance: PHYTONADIONE
     Dosage: UNK
     Route: 042
  146. VITAMIN K1 [Suspect]
     Active Substance: PHYTONADIONE
     Dosage: 5 MILLIGRAM, 1 DOSE PER 1 D
     Route: 065
  147. VITAMIN K1 [Suspect]
     Active Substance: PHYTONADIONE
     Dosage: UNK
     Route: 065
  148. HERBALS [Suspect]
     Active Substance: HERBALS
     Indication: Nutritional supplementation
     Dosage: 12.5 MILLIGRAM, AS NECESSARY
     Route: 065
  149. HERBALS [Suspect]
     Active Substance: HERBALS
     Dosage: 12.5 GRAM, AS NECESSARY
     Route: 065
  150. SODIUM PICOSULFATE [Suspect]
     Active Substance: SODIUM PICOSULFATE
     Indication: Analgesic therapy
     Dosage: 10 MILLIGRAM, AS NECESSARY
     Route: 054
  151. SODIUM PICOSULFATE [Suspect]
     Active Substance: SODIUM PICOSULFATE
     Indication: Constipation
     Dosage: 10 MILLIGRAM, 1 EVERY 1 DAYS RECTAL
     Route: 054
  152. SODIUM PICOSULFATE [Suspect]
     Active Substance: SODIUM PICOSULFATE
     Dosage: UNK
     Route: 065
  153. SODIUM PICOSULFATE [Suspect]
     Active Substance: SODIUM PICOSULFATE
     Dosage: 10 MILLIGRAM, AS NECESSARY (12.5 MG, 1 IN 1 M)
     Route: 054
  154. SODIUM PICOSULFATE [Suspect]
     Active Substance: SODIUM PICOSULFATE
     Dosage: 10 MILLIGRAM, AS NECESSARY
     Route: 065
  155. SODIUM PHOSPHATE [Suspect]
     Active Substance: SODIUM PHOSPHATE
     Indication: Constipation
     Dosage: 133 MILLIGRAM
     Route: 054
  156. SODIUM PHOSPHATE [Suspect]
     Active Substance: SODIUM PHOSPHATE
     Dosage: UNK
     Route: 065
  157. BISMUTH SUBNITRATE\MAGNESIUM OXIDE\MAGNESIUM TRISILICATE\SODIUM PHOSPH [Suspect]
     Active Substance: BISMUTH SUBNITRATE\MAGNESIUM OXIDE\MAGNESIUM TRISILICATE\SODIUM PHOSPHATE, MONOBASIC, ANHYDROUS
     Indication: Product used for unknown indication
     Dosage: 133 MILLILITER, 1 IN 1 D RECTAL
     Route: 054
  158. BISMUTH SUBNITRATE\MAGNESIUM OXIDE\MAGNESIUM TRISILICATE\SODIUM PHOSPH [Suspect]
     Active Substance: BISMUTH SUBNITRATE\MAGNESIUM OXIDE\MAGNESIUM TRISILICATE\SODIUM PHOSPHATE, MONOBASIC, ANHYDROUS
     Dosage: 133 MILLILITER AS REQUIRED
     Route: 065
  159. BISMUTH SUBNITRATE\MAGNESIUM OXIDE\MAGNESIUM TRISILICATE\SODIUM PHOSPH [Suspect]
     Active Substance: BISMUTH SUBNITRATE\MAGNESIUM OXIDE\MAGNESIUM TRISILICATE\SODIUM PHOSPHATE, MONOBASIC, ANHYDROUS
     Dosage: 133 MILLILITER AS REQUIRED
     Route: 065
  160. BISMUTH SUBNITRATE\MAGNESIUM OXIDE\MAGNESIUM TRISILICATE\SODIUM PHOSPH [Suspect]
     Active Substance: BISMUTH SUBNITRATE\MAGNESIUM OXIDE\MAGNESIUM TRISILICATE\SODIUM PHOSPHATE, MONOBASIC, ANHYDROUS
     Dosage: 133 MILLILITER AS REQUIRED
     Route: 065
  161. SUCROSE [Suspect]
     Active Substance: SUCROSE
     Indication: Iron deficiency
     Dosage: 12 MILLIGRAM 1 DOSE PER 1M
     Route: 065
  162. SUCROSE [Suspect]
     Active Substance: SUCROSE
     Dosage: 125 MILLIGRAM UNK
     Route: 065
  163. SUCROSE [Suspect]
     Active Substance: SUCROSE
     Dosage: 125 MILLIGRAM, 1 DOSE PER 1M
     Route: 065
  164. ALBUTEROL SULFATE [Suspect]
     Active Substance: ALBUTEROL SULFATE
     Indication: Chronic obstructive pulmonary disease
     Dosage: UNK UNK, 4 DOSE PER 1 D
     Route: 065
  165. ALBUTEROL SULFATE [Suspect]
     Active Substance: ALBUTEROL SULFATE
     Dosage: 4 DOSAGE FORM, 1 DOSE PER 1 D
     Route: 065
  166. ALBUTEROL SULFATE [Suspect]
     Active Substance: ALBUTEROL SULFATE
     Dosage: UNK
     Route: 065
  167. ALBUTEROL SULFATE [Suspect]
     Active Substance: ALBUTEROL SULFATE
     Dosage: 1 DOSAGE FORM, 1  IN 6 HR
     Route: 065
  168. ALBUTEROL SULFATE [Suspect]
     Active Substance: ALBUTEROL SULFATE
     Dosage: 4 DOSAGE FORM, 1 IN 6 HR
     Route: 065
  169. ALBUTEROL SULFATE [Suspect]
     Active Substance: ALBUTEROL SULFATE
     Dosage: UNK, Q6H
     Route: 055
  170. ALBUTEROL SULFATE [Suspect]
     Active Substance: ALBUTEROL SULFATE
     Dosage: 1 EVERY 6 HOURS
     Route: 065
  171. LUTEIN [Suspect]
     Active Substance: LUTEIN
     Indication: Nutritional supplementation
     Dosage: 12.5 GRAM, PRN
     Route: 042
  172. LUTEIN [Suspect]
     Active Substance: LUTEIN
     Dosage: UNK
     Route: 065
  173. DULCOLAX (BISACODYL) [Suspect]
     Active Substance: BISACODYL
     Indication: Ventricular fibrillation
     Dosage: UNK
     Route: 065
  174. DULCOLAX (BISACODYL) [Suspect]
     Active Substance: BISACODYL
     Indication: Constipation
     Dosage: 10 MILLIGRAM, 1 EVERY 1 DAYS RECTAL
     Route: 054
  175. DULCOLAX (BISACODYL) [Suspect]
     Active Substance: BISACODYL
     Dosage: 10 MILLIGRAM AS NECESSARY
     Route: 054
  176. PYRIDOXINE HYDROCHLORIDE [Suspect]
     Active Substance: PYRIDOXINE HYDROCHLORIDE
     Indication: Vitamin supplementation
     Dosage: UNK
     Route: 048
  177. PYRIDOXINE HYDROCHLORIDE [Suspect]
     Active Substance: PYRIDOXINE HYDROCHLORIDE
     Indication: Analgesic therapy
     Dosage: 1 UNK, 1 DOSE PER 1 D
     Route: 048
  178. PYRIDOXINE HYDROCHLORIDE [Suspect]
     Active Substance: PYRIDOXINE HYDROCHLORIDE
     Dosage: 4 UNK, 1 DOSE PER 1 D
     Route: 048
  179. PYRIDOXINE HYDROCHLORIDE [Suspect]
     Active Substance: PYRIDOXINE HYDROCHLORIDE
     Dosage: 10 MILLIGRAM
     Route: 048
  180. PYRIDOXINE HYDROCHLORIDE [Suspect]
     Active Substance: PYRIDOXINE HYDROCHLORIDE
     Dosage: UNK, QID (1 IN 1 D)
     Route: 048
  181. PYRIDOXINE HYDROCHLORIDE [Suspect]
     Active Substance: PYRIDOXINE HYDROCHLORIDE
     Dosage: 4 UNK, 1 EVERY 6 HOURS (1 IN 1 D)
     Route: 048
  182. HYDROMORPHONE [Suspect]
     Active Substance: HYDROMORPHONE
     Indication: Analgesic therapy
     Dosage: 1 MILLIGRAM PER 4 HOURS
     Route: 058
  183. HYDROMORPHONE [Suspect]
     Active Substance: HYDROMORPHONE
     Dosage: 1 MILLIGRAM 1 EVERY 6 HOUR SUBCUTANEOUS
     Route: 058
  184. HYDROMORPHONE [Suspect]
     Active Substance: HYDROMORPHONE
     Dosage: 6 MILLIGRAM, QID
     Route: 058
  185. HYDROMORPHONE [Suspect]
     Active Substance: HYDROMORPHONE
     Dosage: 6 MILLIGRAM, 1 EVERY 6 HOUR
     Route: 058
  186. HYDROMORPHONE [Suspect]
     Active Substance: HYDROMORPHONE
     Dosage: 96 MILLIGRAM, 1 DOSE PER 1 D
     Route: 065
  187. HYDROMORPHONE [Suspect]
     Active Substance: HYDROMORPHONE
     Dosage: 24 MG 1 DOSE PER 1 D
     Route: 058
  188. HYDROMORPHONE [Suspect]
     Active Substance: HYDROMORPHONE
     Dosage: 1 MILLIGRAM, 1 DOSE PER 1 D
     Route: 058
  189. HYDROMORPHONE [Suspect]
     Active Substance: HYDROMORPHONE
     Dosage: 6 MILLIGRAM, 6 DOSE PER 1D (36 MG, 6  IN 1 D)
     Route: 058
  190. HYDROMORPHONE [Suspect]
     Active Substance: HYDROMORPHONE
     Dosage: 4 MILLIGRAM, 1 DOSE PER 1 D
     Route: 058
  191. HYDROMORPHONE [Suspect]
     Active Substance: HYDROMORPHONE
     Dosage: 6 MILLIGRAM, 1 IN 5 HR
     Route: 058
  192. HYDROMORPHONE [Suspect]
     Active Substance: HYDROMORPHONE
     Dosage: 24 MILLIGRAM, 4 DOSE PER 1 D
     Route: 058
  193. HYDROMORPHONE [Suspect]
     Active Substance: HYDROMORPHONE
     Dosage: 6 MILLIGRAM, 1 EVERY 4 HOURS
     Route: 058
  194. HYDROMORPHONE [Suspect]
     Active Substance: HYDROMORPHONE
     Dosage: 6 MILLIGRAM, 1 DOSE PER 1 D
     Route: 065
  195. HYDROMORPHONE [Suspect]
     Active Substance: HYDROMORPHONE
     Dosage: 4 MILLIGRAM, 6 D IN 1D (4 MG,6 IN 4 HR)
     Route: 058
  196. HYDROMORPHONE [Suspect]
     Active Substance: HYDROMORPHONE
     Dosage: 17 MILLIGRAM, 1 DOSE PER 1D
     Route: 058
  197. HYDROMORPHONE [Suspect]
     Active Substance: HYDROMORPHONE
     Dosage: 24 MILLIGRAM, 6 DOSE PER 1D
     Route: 058
  198. ACETAMINOPHEN [Suspect]
     Active Substance: ACETAMINOPHEN
     Indication: Analgesic therapy
     Dosage: 650 MILLIGRAM, 1 EVERY 1 DAYS
     Route: 048
  199. ACETAMINOPHEN [Suspect]
     Active Substance: ACETAMINOPHEN
     Dosage: UNK
     Route: 065
  200. ACETAMINOPHEN [Suspect]
     Active Substance: ACETAMINOPHEN
     Dosage: 5 MILLIGRAM, 1 DOSE PER 1 D
     Route: 042
  201. ACETAMINOPHEN [Suspect]
     Active Substance: ACETAMINOPHEN
     Dosage: 650 MILLIGRAM, 1 EVERY 1 DAYS
     Route: 065
  202. ALLOPURINOL [Suspect]
     Active Substance: ALLOPURINOL
     Indication: Blood uric acid increased
     Dosage: 1 DOSAGE FORM, DAILY
     Route: 048
  203. ALLOPURINOL [Suspect]
     Active Substance: ALLOPURINOL
     Dosage: 100 MILLIGRAM, QD
     Route: 048
  204. ALLOPURINOL [Suspect]
     Active Substance: ALLOPURINOL
     Dosage: 1 DOSAGE FORM
     Route: 048
  205. ALBUTEROL [Suspect]
     Active Substance: ALBUTEROL
     Indication: Chronic obstructive pulmonary disease
     Dosage: 1 DOSAGE FORM EVERY 6 HOURS
     Route: 055
  206. ALLANTOIN [Suspect]
     Active Substance: ALLANTOIN
     Indication: Constipation
     Dosage: UNK
     Route: 065
  207. ALLANTOIN [Suspect]
     Active Substance: ALLANTOIN
     Dosage: 17 GRAM,1 IN 1 D
     Route: 065
  208. ALLANTOIN [Suspect]
     Active Substance: ALLANTOIN
     Dosage: 17 GRAM, 1 IN 1D
     Route: 048
  209. POTASSIUM CHLORIDE [Suspect]
     Active Substance: POTASSIUM CHLORIDE
     Indication: Constipation
     Dosage: 17 GRAM 1 EVERY 1 DAYS ORAL
     Route: 048
  210. POTASSIUM CHLORIDE [Suspect]
     Active Substance: POTASSIUM CHLORIDE
     Dosage: 17 MILLIGRAM,  (17 MG, 1 IN 1 D)
     Route: 048
  211. .BETA.-CAROTENE [Suspect]
     Active Substance: .BETA.-CAROTENE
     Indication: Nutritional supplementation
     Dosage: 12.5 GRAM, AS REQUIRED
     Route: 042
  212. .BETA.-CAROTENE [Suspect]
     Active Substance: .BETA.-CAROTENE
     Dosage: 12.5 GRAM, AS REQUIRED
     Route: 065
  213. .BETA.-CAROTENE [Suspect]
     Active Substance: .BETA.-CAROTENE
     Dosage: UNK
     Route: 065
  214. UMECLIDINIUM BROMIDE [Suspect]
     Active Substance: UMECLIDINIUM BROMIDE
     Indication: Dyspnoea
     Dosage: 1 INTERNATIONAL UNIT 1 EVERY 1 DAYS ORAL
     Route: 048
  215. UMECLIDINIUM BROMIDE [Suspect]
     Active Substance: UMECLIDINIUM BROMIDE
     Dosage: 1 DOSAGE FORM
     Route: 048
  216. LANSOPRAZOLE [Suspect]
     Active Substance: LANSOPRAZOLE
     Indication: Antacid therapy
     Dosage: 30 MILLIGRAM DAILY
     Route: 048
  217. LANSOPRAZOLE [Suspect]
     Active Substance: LANSOPRAZOLE
     Dosage: UNK
     Route: 048
  218. PHYTONADIONE [Suspect]
     Active Substance: PHYTONADIONE
     Indication: Vitamin supplementation
     Dosage: 5 MILLIGRAM, AS NECESSARY
     Route: 042
  219. PHYTONADIONE [Suspect]
     Active Substance: PHYTONADIONE
     Dosage: 5 MILLIGRAM, 1 DOSE PER 1 D
     Route: 065
  220. PHYTONADIONE [Suspect]
     Active Substance: PHYTONADIONE
     Dosage: 5 MILLIGRAM UNKNOWN
     Route: 065
  221. PHYTONADIONE [Suspect]
     Active Substance: PHYTONADIONE
     Dosage: 5 MILLIGRAM, 1 DOSE PER 1 D
     Route: 065
  222. PHYTONADIONE [Suspect]
     Active Substance: PHYTONADIONE
     Dosage: 5 MILLIGRAM, 1 DOSE PER 1 D
     Route: 042
  223. ASCORBIC ACID\PEG-3350\POTASSIUM CHLORIDE\SODIUM (ASCORBATE/CHLORIDE/S [Suspect]
     Active Substance: ASCORBIC ACID\POLYETHYLENE GLYCOL 3350\POTASSIUM CHLORIDE\SODIUM ASCORBATE\SODIUM CHLORIDE\SODIUM SU
     Indication: Constipation
     Dosage: 17 MILLIGRAM, QD
     Route: 048
  224. ASCORBIC ACID\PEG-3350\POTASSIUM CHLORIDE\SODIUM (ASCORBATE/CHLORIDE/S [Suspect]
     Active Substance: ASCORBIC ACID\POLYETHYLENE GLYCOL 3350\POTASSIUM CHLORIDE\SODIUM ASCORBATE\SODIUM CHLORIDE\SODIUM SU
     Indication: Iron deficiency
     Dosage: 1 DOSAGE FORM, 1 EVERY 6 HOURS (1 DOSAGE FORMS,1 IN 1 D)
     Route: 055
  225. ASCORBIC ACID\PEG-3350\POTASSIUM CHLORIDE\SODIUM (ASCORBATE/CHLORIDE/S [Suspect]
     Active Substance: ASCORBIC ACID\POLYETHYLENE GLYCOL 3350\POTASSIUM CHLORIDE\SODIUM ASCORBATE\SODIUM CHLORIDE\SODIUM SU
     Dosage: 3 MILLIGRAM, 1 DOSE PER 1W
     Route: 048
  226. ASCORBIC ACID\PEG-3350\POTASSIUM CHLORIDE\SODIUM (ASCORBATE/CHLORIDE/S [Suspect]
     Active Substance: ASCORBIC ACID\POLYETHYLENE GLYCOL 3350\POTASSIUM CHLORIDE\SODIUM ASCORBATE\SODIUM CHLORIDE\SODIUM SU
     Dosage: UNK, 1 DOSE PER 1 D
     Route: 048
  227. ASCORBIC ACID\PEG-3350\POTASSIUM CHLORIDE\SODIUM (ASCORBATE/CHLORIDE/S [Suspect]
     Active Substance: ASCORBIC ACID\POLYETHYLENE GLYCOL 3350\POTASSIUM CHLORIDE\SODIUM ASCORBATE\SODIUM CHLORIDE\SODIUM SU
     Dosage: UNK
     Route: 065
  228. ASCORBIC ACID\PEG-3350\POTASSIUM CHLORIDE\SODIUM (ASCORBATE/CHLORIDE/S [Suspect]
     Active Substance: ASCORBIC ACID\POLYETHYLENE GLYCOL 3350\POTASSIUM CHLORIDE\SODIUM ASCORBATE\SODIUM CHLORIDE\SODIUM SU
     Dosage: 17 GRAM, QD
     Route: 048
  229. ASCORBIC ACID\PEG-3350\POTASSIUM CHLORIDE\SODIUM (ASCORBATE/CHLORIDE/S [Suspect]
     Active Substance: ASCORBIC ACID\POLYETHYLENE GLYCOL 3350\POTASSIUM CHLORIDE\SODIUM ASCORBATE\SODIUM CHLORIDE\SODIUM SU
     Dosage: 2.5 MILLILITER, QD
     Route: 048
  230. DEXTROSE [Suspect]
     Active Substance: DEXTROSE\DEXTROSE MONOHYDRATE
     Indication: Nutritional supplementation
     Dosage: 250 MILLILITER, 1 DOSE PER 1 D
     Route: 042
  231. DEXTROSE [Suspect]
     Active Substance: DEXTROSE\DEXTROSE MONOHYDRATE
     Indication: Anticoagulant therapy
     Dosage: 1.25 GRAM AS NECESSARY DEXTROSE
     Route: 042
  232. DEXTROSE [Suspect]
     Active Substance: DEXTROSE\DEXTROSE MONOHYDRATE
     Dosage: 1.25 GRAM AS NECESSARY DEXTROSE
     Route: 042
  233. DEXTROSE [Suspect]
     Active Substance: DEXTROSE\DEXTROSE MONOHYDRATE
     Dosage: 12.5 GRAM AS NECESSARY, DEXTROSE
     Route: 042
  234. DEXTROSE [Suspect]
     Active Substance: DEXTROSE\DEXTROSE MONOHYDRATE
     Dosage: 250 MILLILITER
     Route: 042
  235. DEXTROSE [Suspect]
     Active Substance: DEXTROSE\DEXTROSE MONOHYDRATE
     Dosage: 12 GRAM PER KILOGRAM PER 8 HOUR QD
     Route: 042
  236. DEXTROSE [Suspect]
     Active Substance: DEXTROSE\DEXTROSE MONOHYDRATE
     Dosage: 50 MILLILITER
     Route: 042
  237. DEXTROSE [Suspect]
     Active Substance: DEXTROSE\DEXTROSE MONOHYDRATE
     Dosage: 12.5 MILLIGRAM, 1 EVERY 1 DAYS IV
     Route: 042
  238. DEXTROSE [Suspect]
     Active Substance: DEXTROSE\DEXTROSE MONOHYDRATE
     Dosage: 50 MILLILITER, 1 DOSE PER 1 D
     Route: 065
  239. DEXTROSE [Suspect]
     Active Substance: DEXTROSE\DEXTROSE MONOHYDRATE
     Dosage: 1 DOSAGE FORM, 1 DOSE PER 1 D
     Route: 058
  240. DEXTROSE [Suspect]
     Active Substance: DEXTROSE\DEXTROSE MONOHYDRATE
     Dosage: 1 DOSAGE FORM, 1 DOSE PER 1 D
     Route: 058
  241. DEXTROSE [Suspect]
     Active Substance: DEXTROSE\DEXTROSE MONOHYDRATE
     Dosage: 12 MILLIGRAM, 1 EVERY 1 DAYS IV
     Route: 042
  242. DEXTROSE [Suspect]
     Active Substance: DEXTROSE\DEXTROSE MONOHYDRATE
     Dosage: 12 GRAM, 1 EVERY 1 DAYS IV
     Route: 042
  243. DEXTROSE [Suspect]
     Active Substance: DEXTROSE\DEXTROSE MONOHYDRATE
     Dosage: 12.5 GRAM AS NECESSARY DEXTROSE (12 GRAM)
     Route: 042
  244. DEXTROSE [Suspect]
     Active Substance: DEXTROSE\DEXTROSE MONOHYDRATE
     Dosage: 12 GRAM, 1 EVERY 1 DAYS IV
     Route: 042
  245. FLUTICASONE [Suspect]
     Active Substance: FLUTICASONE
     Indication: Nutritional supplementation
     Dosage: 1 INTERNATIONAL UNIT 1 EVERY 1 DAYS ORAL
     Route: 048
  246. FLUTICASONE [Suspect]
     Active Substance: FLUTICASONE
     Indication: Dyspnoea
     Dosage: UNK
     Route: 065
  247. FLUTICASONE [Suspect]
     Active Substance: FLUTICASONE
     Indication: Blood phosphorus increased
  248. AMMONIUM CHLORIDE [Suspect]
     Active Substance: AMMONIUM CHLORIDE
     Indication: Thrombosis
     Dosage: 2.5 MILLILITER, 1 EVERY 1 DAYS
     Route: 048
  249. AMMONIUM CHLORIDE [Suspect]
     Active Substance: AMMONIUM CHLORIDE
     Dosage: 2.5 MILLILITER, AS REQUIRED
     Route: 048
  250. AMMONIUM CHLORIDE [Suspect]
     Active Substance: AMMONIUM CHLORIDE
     Dosage: UNK
     Route: 065
  251. BISMUTH SUBGALLATE\BUFEXAMAC\LIDOCAINE HYDROCHLORIDE\TITANIUM DIOXIDE [Suspect]
     Active Substance: BISMUTH SUBGALLATE\BUFEXAMAC\LIDOCAINE HYDROCHLORIDE\TITANIUM DIOXIDE
     Indication: Constipation
     Dosage: 133 MILLILITER AS NECESSARY (133 MG)
     Route: 054
  252. BISMUTH SUBGALLATE\BUFEXAMAC\LIDOCAINE HYDROCHLORIDE\TITANIUM DIOXIDE [Suspect]
     Active Substance: BISMUTH SUBGALLATE\BUFEXAMAC\LIDOCAINE HYDROCHLORIDE\TITANIUM DIOXIDE
     Dosage: 133 MILLILITER, AS NECESSARY
     Route: 065
  253. DEXILANT [Suspect]
     Active Substance: DEXLANSOPRAZOLE
     Indication: Product used for unknown indication
     Dosage: 60 MILLIGRAM, 1 EVERY 1 DAYS ORAL
     Route: 048
  254. DEXILANT [Suspect]
     Active Substance: DEXLANSOPRAZOLE
     Dosage: 60 MILLIGRAM, 1 IN 1D
     Route: 048
  255. DEXILANT [Suspect]
     Active Substance: DEXLANSOPRAZOLE
     Dosage: UNK
     Route: 065
  256. INSULIN DEGLUDEC [Suspect]
     Active Substance: INSULIN DEGLUDEC
     Indication: Diabetes mellitus
     Dosage: UNK
     Route: 058
  257. ALUMINUM HYDROXIDE\MAGNESIUM HYDROXIDE [Suspect]
     Active Substance: ALUMINUM HYDROXIDE\MAGNESIUM HYDROXIDE
     Indication: Constipation
     Dosage: 133 MILLILITER AS NECESSARY
     Route: 054
  258. DOCUSATE SODIUM [Suspect]
     Active Substance: DOCUSATE SODIUM
     Indication: Product used for unknown indication
     Dosage: UNK
     Route: 065
  259. WARFARIN [Suspect]
     Active Substance: WARFARIN
     Indication: Thrombosis
     Dosage: 1 MG (2 MG,1 IN 2 D)
     Route: 048
  260. WARFARIN [Suspect]
     Active Substance: WARFARIN
     Dosage: 2 MILLIGRAM
     Route: 048
  261. WARFARIN [Suspect]
     Active Substance: WARFARIN
     Dosage: 2 MILLIGRAM
     Route: 048
  262. WARFARIN [Suspect]
     Active Substance: WARFARIN
     Dosage: 2 GRAM, DAILY
     Route: 065
  263. BISACODYL [Suspect]
     Active Substance: BISACODYL
     Indication: Constipation
     Dosage: 10 MILLIGRAM, 1 EVERY 1 DAYS RECTAL
     Route: 054
  264. BISACODYL [Suspect]
     Active Substance: BISACODYL
     Indication: Ventricular fibrillation
     Dosage: 10 MILLIGRAM, AS REQUIRED (10 MG,1 IN 1 D)
     Route: 054
  265. BISACODYL [Suspect]
     Active Substance: BISACODYL
     Indication: Drug therapy
     Dosage: 10 MILLIGRAM
     Route: 054
  266. BISACODYL [Suspect]
     Active Substance: BISACODYL
     Indication: Dyspnoea
     Dosage: UNK
     Route: 065
  267. UNSPECIFIED INGREDIENT [Suspect]
     Active Substance: UNSPECIFIED INGREDIENT
     Indication: Anticoagulant therapy
     Dosage: 250 MILLILITER
     Route: 042
  268. UNSPECIFIED INGREDIENT [Suspect]
     Active Substance: UNSPECIFIED INGREDIENT
     Dosage: 50 MILLILITER
     Route: 042
  269. UNSPECIFIED INGREDIENT [Suspect]
     Active Substance: UNSPECIFIED INGREDIENT
     Dosage: UNK
     Route: 065
  270. UNSPECIFIED INGREDIENT [Suspect]
     Active Substance: UNSPECIFIED INGREDIENT
     Dosage: 250 MILLILITER
     Route: 065
  271. UNSPECIFIED INGREDIENT [Suspect]
     Active Substance: UNSPECIFIED INGREDIENT
     Dosage: 50 MILLILITER
     Route: 065
  272. UNSPECIFIED INGREDIENT [Suspect]
     Active Substance: UNSPECIFIED INGREDIENT
     Dosage: 250 MILLILITER
     Route: 065
  273. UNSPECIFIED INGREDIENT [Suspect]
     Active Substance: UNSPECIFIED INGREDIENT
     Dosage: 250 MILLILITER, 1 DOSE PER 1 DAY
     Route: 042
  274. UNSPECIFIED INGREDIENT [Suspect]
     Active Substance: UNSPECIFIED INGREDIENT
     Dosage: UNK
     Route: 042
  275. HERBALS\PAULLINIA CUPANA SEED [Suspect]
     Active Substance: HERBALS\PAULLINIA CUPANA SEED
     Indication: Nutritional supplementation
     Dosage: UNK
     Route: 042
  276. HERBALS\PAULLINIA CUPANA SEED [Suspect]
     Active Substance: HERBALS\PAULLINIA CUPANA SEED
     Dosage: 12.5 MILLIGRAM UNKNOWN
     Route: 065
  277. HERBALS\PAULLINIA CUPANA SEED [Suspect]
     Active Substance: HERBALS\PAULLINIA CUPANA SEED
     Dosage: 17 MILLIGRAM UNKNOWN
     Route: 065
  278. HERBALS\PAULLINIA CUPANA SEED [Suspect]
     Active Substance: HERBALS\PAULLINIA CUPANA SEED
     Dosage: 12.5 MILLIGRAM
     Route: 042
  279. ROCALTROL [Suspect]
     Active Substance: CALCITRIOL
     Indication: Hypovitaminosis
     Dosage: 0.25 MICROGRAM, 1 EVERY 1 DAYS ORAL
     Route: 048
  280. ASCORBIC ACID [Suspect]
     Active Substance: ASCORBIC ACID
     Indication: Constipation
     Dosage: UNK
     Route: 065
  281. ASCORBIC ACID [Suspect]
     Active Substance: ASCORBIC ACID
     Dosage: 17 GRAM, 1 DOSE PER 1 D
     Route: 048
  282. ASCORBIC ACID [Suspect]
     Active Substance: ASCORBIC ACID
     Dosage: 17 MILLIGRAM, 1 DOSE PER 1 D
     Route: 048
  283. ASCORBIC ACID [Suspect]
     Active Substance: ASCORBIC ACID
     Dosage: UNK, 1 DOSE PER 1 D
     Route: 065
  284. METAMIZOLE SODIUM [Suspect]
     Active Substance: METAMIZOLE SODIUM
     Indication: Vitamin supplementation
     Dosage: UNK
     Route: 065
  285. METAMIZOLE SODIUM [Suspect]
     Active Substance: METAMIZOLE SODIUM
     Dosage: 5 MILLIGRAM
     Route: 065
  286. ALUMINUM HYDROXIDE [Suspect]
     Active Substance: ALUMINUM HYDROXIDE
     Indication: Constipation
     Dosage: 133 MILLILITER AS REQUIRED
     Route: 065
  287. CHLORAMPHENICOL [Suspect]
     Active Substance: CHLORAMPHENICOL
     Indication: Product used for unknown indication
     Dosage: UNK
     Route: 065
  288. GABAPENTIN [Suspect]
     Active Substance: GABAPENTIN
     Indication: Neuralgia
     Dosage: 100 MILLIGRAM ORAL
     Route: 048
  289. GABAPENTIN [Suspect]
     Active Substance: GABAPENTIN
     Indication: Bacterial infection
     Dosage: 10 MILLIGRAM ORAL
     Route: 048
  290. GABAPENTIN [Suspect]
     Active Substance: GABAPENTIN
     Dosage: 100 MILLIGRAM, QD ORAL
     Route: 048
  291. GABAPENTIN [Suspect]
     Active Substance: GABAPENTIN
     Dosage: UNK
     Route: 065
  292. GABAPENTIN [Suspect]
     Active Substance: GABAPENTIN
     Dosage: 100 MILLIGRAM 1 EVERY 1 DAYS
     Route: 048
  293. CALCIUM\VITAMIN D [Suspect]
     Active Substance: CALCIUM\VITAMIN D
     Indication: Product used for unknown indication
     Dosage: UNK
     Route: 065
  294. HERBALS [Suspect]
     Active Substance: HERBALS
     Indication: Nutritional supplementation
     Dosage: 12.5 MILLIGRAM
     Route: 065
  295. UMECLIDINIUM BROMIDE\VILANTEROL TRIFENATATE [Suspect]
     Active Substance: UMECLIDINIUM BROMIDE\VILANTEROL TRIFENATATE
     Indication: Dyspnoea
     Dosage: 1 INTERNATIONAL UNIT, QD
     Route: 048
  296. DEXTROSE AND SODIUM CHLORIDE [Suspect]
     Active Substance: DEXTROSE MONOHYDRATE\SODIUM CHLORIDE
     Indication: Product used for unknown indication
     Dosage: 12.5 GRAM, 1 DOSE PER 1 D
     Route: 065
  297. DEXTROSE AND SODIUM CHLORIDE [Suspect]
     Active Substance: DEXTROSE MONOHYDRATE\SODIUM CHLORIDE
     Dosage: UNK
     Route: 065
  298. DEXTROSE AND SODIUM CHLORIDE [Suspect]
     Active Substance: DEXTROSE MONOHYDRATE\SODIUM CHLORIDE
     Dosage: 12.5 MILLIGRAM, AS REQUIRED
     Route: 065
  299. DEXTROSE AND SODIUM CHLORIDE [Suspect]
     Active Substance: DEXTROSE MONOHYDRATE\SODIUM CHLORIDE
     Dosage: 12.5 MILLIGRAM
     Route: 065
  300. CHLORAMPHENICOL\HYDROCORTISONE ACETATE\METRONIDAZOLE\NYSTATIN [Suspect]
     Active Substance: CHLORAMPHENICOL\HYDROCORTISONE ACETATE\METRONIDAZOLE\NYSTATIN
     Indication: Bacterial infection
     Dosage: 1500 MILLIGRAM
     Route: 065
  301. CHLORAMPHENICOL\HYDROCORTISONE ACETATE\METRONIDAZOLE\NYSTATIN [Suspect]
     Active Substance: CHLORAMPHENICOL\HYDROCORTISONE ACETATE\METRONIDAZOLE\NYSTATIN
     Indication: Anaemia
  302. DIETARY SUPPLEMENT\HERBALS [Suspect]
     Active Substance: DIETARY SUPPLEMENT\HERBALS
     Indication: Nutritional supplementation
     Dosage: UNK
     Route: 065
  303. DIETARY SUPPLEMENT\HERBALS [Suspect]
     Active Substance: DIETARY SUPPLEMENT\HERBALS
     Dosage: 12.5 GRAM DEXTROSE 60% (12.5 GM)
     Route: 065
  304. VASOPRESSIN [Suspect]
     Active Substance: VASOPRESSIN
     Indication: Drug therapy
     Dosage: 50 MILLILITER, 1 DOSE PER 1 D
     Route: 042
  305. VASOPRESSIN [Suspect]
     Active Substance: VASOPRESSIN
     Dosage: UNK
     Route: 065
  306. VASOPRESSIN [Suspect]
     Active Substance: VASOPRESSIN
     Dosage: 250 MILLILITER, 1 DOSE PER 1 D
     Route: 042
  307. METRONIDAZOLE [Suspect]
     Active Substance: METRONIDAZOLE
     Indication: Bacterial infection
     Dosage: 500 MILLIGRAM Q 8 HR
     Route: 048
  308. METRONIDAZOLE [Suspect]
     Active Substance: METRONIDAZOLE
     Dosage: 500 MICROGRAM, 1 DOSE PER 1 D
     Route: 048
  309. VILANTEROL TRIFENATATE [Suspect]
     Active Substance: VILANTEROL TRIFENATATE
     Indication: Dyspnoea
     Dosage: 1 INTERNATIONAL UNIT 1 EVERY 1 DAYS ORAL
     Route: 048
  310. VILANTEROL TRIFENATATE [Suspect]
     Active Substance: VILANTEROL TRIFENATATE
     Indication: Nutritional supplementation
     Dosage: UNK
     Route: 065
  311. VILANTEROL TRIFENATATE [Suspect]
     Active Substance: VILANTEROL TRIFENATATE
     Dosage: 1 INTERNATIONAL UNIT
     Route: 048
  312. VILANTEROL TRIFENATATE [Suspect]
     Active Substance: VILANTEROL TRIFENATATE
     Dosage: UNK UNK, QD (1 IN 1 D)
     Route: 065
  313. .ALPHA.-TOCOPHEROL [Suspect]
     Active Substance: .ALPHA.-TOCOPHEROL
     Indication: Nutritional supplementation
     Dosage: 12.5 MILLIGRAM
     Route: 042
  314. .ALPHA.-TOCOPHEROL [Suspect]
     Active Substance: .ALPHA.-TOCOPHEROL
     Dosage: UNK
     Route: 065
  315. .ALPHA.-TOCOPHEROL [Suspect]
     Active Substance: .ALPHA.-TOCOPHEROL
     Dosage: 12.5 GRAM
     Route: 042
  316. IPRATROPIUM [Suspect]
     Active Substance: IPRATROPIUM
     Indication: Dyspnoea
     Dosage: UNK, 1 DOSE PER 1 D
     Route: 065
  317. IPRATROPIUM [Suspect]
     Active Substance: IPRATROPIUM
     Indication: Sleep disorder therapy
     Dosage: UNK ENDOSINUSIAL (1 DOSAGE FORMS,1 IN 1 D)
     Route: 006
  318. IPRATROPIUM [Suspect]
     Active Substance: IPRATROPIUM
     Dosage: 1 DOSAGE FORM, 1 DOSE PER 4D
     Route: 055
  319. IPRATROPIUM [Suspect]
     Active Substance: IPRATROPIUM
     Dosage: 4 DOSAGE FORM, 1 DOSE PER 1 D
     Route: 055
  320. IPRATROPIUM [Suspect]
     Active Substance: IPRATROPIUM
     Dosage: 1 DOSAGE FORM, QD
     Route: 055
  321. FLUTICASONE FUROATE\VILANTEROL TRIFENATATE [Suspect]
     Active Substance: FLUTICASONE FUROATE\VILANTEROL TRIFENATATE
     Indication: Nutritional supplementation
     Dosage: 1 INTERNATIONAL UNIT
     Route: 048
  322. FLUTICASONE FUROATE\VILANTEROL TRIFENATATE [Suspect]
     Active Substance: FLUTICASONE FUROATE\VILANTEROL TRIFENATATE
     Indication: Dyspnoea
     Dosage: UNK
     Route: 058
  323. FLUTICASONE FUROATE\VILANTEROL TRIFENATATE [Suspect]
     Active Substance: FLUTICASONE FUROATE\VILANTEROL TRIFENATATE
     Indication: Blood phosphorus increased
     Dosage: UNK
     Route: 065
  324. FLUTICASONE FUROATE\VILANTEROL TRIFENATATE [Suspect]
     Active Substance: FLUTICASONE FUROATE\VILANTEROL TRIFENATATE
     Dosage: UNK
     Route: 048
  325. FLUTICASONE FUROATE\VILANTEROL TRIFENATATE [Suspect]
     Active Substance: FLUTICASONE FUROATE\VILANTEROL TRIFENATATE
     Dosage: 1 INTERNATIONAL UNIT
     Route: 065
  326. FLUTICASONE FUROATE\VILANTEROL TRIFENATATE [Suspect]
     Active Substance: FLUTICASONE FUROATE\VILANTEROL TRIFENATATE
     Dosage: 1 INTERNATIONAL UNIT, 1 IN 1 D
     Route: 048
  327. DEXTROSE [Suspect]
     Active Substance: DEXTROSE\DEXTROSE MONOHYDRATE
     Indication: Nutritional supplementation
     Dosage: 12.5 GRAM IV
     Route: 042
  328. POLYETHYLENE GLYCOL [Suspect]
     Active Substance: POLYETHYLENE GLYCOL
     Indication: Constipation
     Dosage: 17 GRAM 1 EVERY 1 DAYS ORAL
     Route: 048
  329. POLYETHYLENE GLYCOL [Suspect]
     Active Substance: POLYETHYLENE GLYCOL
     Indication: Iron deficiency
     Dosage: 3 MILLIGRAM, 1 DOSE PER 1W
     Route: 048
  330. POLYETHYLENE GLYCOL [Suspect]
     Active Substance: POLYETHYLENE GLYCOL
     Dosage: 17 MILLIGRAM, 1 DOSE PER 1 D
     Route: 048
  331. POLYETHYLENE GLYCOL [Suspect]
     Active Substance: POLYETHYLENE GLYCOL
     Dosage: 17 MILLIGRAM
     Route: 048
  332. POLYETHYLENE GLYCOL [Suspect]
     Active Substance: POLYETHYLENE GLYCOL
     Dosage: 2.5 MILLILITER
     Route: 042
  333. PROPYLENE GLYCOL [Suspect]
     Active Substance: PROPYLENE GLYCOL
     Indication: Product used for unknown indication
     Dosage: UNK
     Route: 065
  334. VITAMIN B6 [Suspect]
     Active Substance: PYRIDOXINE HYDROCHLORIDE
     Indication: Vitamin supplementation
     Dosage: 10 MILLIGRAM
     Route: 048
  335. VITAMIN B6 [Suspect]
     Active Substance: PYRIDOXINE HYDROCHLORIDE
     Dosage: UNKNOWN, 4 DOSE  IN 1D
     Route: 048
  336. VITAMIN B6 [Suspect]
     Active Substance: PYRIDOXINE HYDROCHLORIDE
     Dosage: 1 INTERNATIONAL UNIT, 1 DOSE PER 1 D
     Route: 048
  337. VITAMIN B6 [Suspect]
     Active Substance: PYRIDOXINE HYDROCHLORIDE
     Dosage: UNK ORAL
     Route: 048
  338. VITAMIN B6 [Suspect]
     Active Substance: PYRIDOXINE HYDROCHLORIDE
     Dosage: 4 INTERNATIONAL UNIT, 1 DOSE PER 1 D
     Route: 048
  339. VITAMIN B6 [Suspect]
     Active Substance: PYRIDOXINE HYDROCHLORIDE
     Dosage: 4 INTERNATIONAL UNIT, 4 EVERY 6 HOURS
     Route: 048
  340. BETAMETHASONE DIPROPIONATE [Suspect]
     Active Substance: BETAMETHASONE DIPROPIONATE
     Indication: Swelling
     Dosage: 1 DOSAGE FORM TOPICAL
     Route: 061
  341. BETAMETHASONE DIPROPIONATE [Suspect]
     Active Substance: BETAMETHASONE DIPROPIONATE
     Dosage: 10 MILLIGRAM 1 EVERY 1 DAYS TOPICAL
     Route: 061
  342. BETAMETHASONE DIPROPIONATE [Suspect]
     Active Substance: BETAMETHASONE DIPROPIONATE
     Dosage: 1 DOSAGE FORM 1 EVERY 1 DAYS IV
     Route: 042
  343. BETAMETHASONE DIPROPIONATE [Suspect]
     Active Substance: BETAMETHASONE DIPROPIONATE
     Dosage: 1 DOSAGE FORM 1 EVERY 1 DAYS SC
     Route: 058
  344. BETAMETHASONE DIPROPIONATE [Suspect]
     Active Substance: BETAMETHASONE DIPROPIONATE
     Dosage: UNK UNK, 1 DOSE PER 1 D (1 DOSAGE FORMS,1 IN 1 D)
     Route: 061
  345. BETAMETHASONE DIPROPIONATE [Suspect]
     Active Substance: BETAMETHASONE DIPROPIONATE
     Dosage: UNK UNK, 1 DOSE PER 1 D (1 DOSAGE FORMS,1 IN 1 D)
     Route: 065
  346. ALBUTEROL [Suspect]
     Active Substance: ALBUTEROL
     Indication: Chronic obstructive pulmonary disease
     Dosage: 1 DOSAGE FORM 1 EVERY 6 HOURS INHALATION
     Route: 055
  347. ALBUTEROL [Suspect]
     Active Substance: ALBUTEROL
     Dosage: 1 DOSAGE FORM INHALATION
     Route: 055
  348. ALBUTEROL [Suspect]
     Active Substance: ALBUTEROL
     Dosage: 4 DOSAGE FORM
     Route: 065
  349. ALBUTEROL SULFATE\IPRATROPIUM BROMIDE [Suspect]
     Active Substance: ALBUTEROL SULFATE\IPRATROPIUM BROMIDE
     Indication: Sleep disorder therapy
     Dosage: 1 DOSAGE FORM, 1 EVERY 6 HOURS INHALATION USE
     Route: 055
  350. ALBUTEROL SULFATE\IPRATROPIUM BROMIDE [Suspect]
     Active Substance: ALBUTEROL SULFATE\IPRATROPIUM BROMIDE
     Indication: Dyspnoea
     Dosage: 4 DOSAGE FORM 1 DOSAGE FORM 4 EVERY 1 DAYS
     Route: 055
  351. ALBUTEROL SULFATE\IPRATROPIUM BROMIDE [Suspect]
     Active Substance: ALBUTEROL SULFATE\IPRATROPIUM BROMIDE
     Dosage: UNK
     Route: 065
  352. ALBUTEROL SULFATE\IPRATROPIUM BROMIDE [Suspect]
     Active Substance: ALBUTEROL SULFATE\IPRATROPIUM BROMIDE
     Dosage: 1 DOSAGE FORM 4 EVERY 1 DAY
     Route: 055
  353. ALBUTEROL SULFATE\IPRATROPIUM BROMIDE [Suspect]
     Active Substance: ALBUTEROL SULFATE\IPRATROPIUM BROMIDE
     Dosage: 1 DOSAGE FORM 1 DOSE PER 6 HRS INHALATION INHALATION
     Route: 055
  354. RIBOFLAVIN [Suspect]
     Active Substance: RIBOFLAVIN
     Indication: Product used for unknown indication
     Dosage: 17 GRAM 1 EVERY 1 DAYS ORAL
     Route: 048
  355. ZOCOR [Suspect]
     Active Substance: SIMVASTATIN
     Indication: Blood cholesterol increased
     Dosage: 40 MILLIGRAM, 1 DOSE PER 1 D
     Route: 048
  356. POLYETHYLENE GLYCOL 3350 [Suspect]
     Active Substance: POLYETHYLENE GLYCOL 3350
     Indication: Constipation
     Dosage: UNK, 1 DOSE PER 1 D
     Route: 048
  357. POLYETHYLENE GLYCOL 3350 [Suspect]
     Active Substance: POLYETHYLENE GLYCOL 3350
     Dosage: 2.5 MILLILITER
     Route: 042
  358. POLYETHYLENE GLYCOL 3350 [Suspect]
     Active Substance: POLYETHYLENE GLYCOL 3350
     Dosage: 17 GRAM, PER DAY, POWDER FOR ORAL SOLUTION
     Route: 048
  359. POLYETHYLENE GLYCOL 3350 [Suspect]
     Active Substance: POLYETHYLENE GLYCOL 3350
     Dosage: UNK
     Route: 048
  360. POLYETHYLENE GLYCOL 3350 [Suspect]
     Active Substance: POLYETHYLENE GLYCOL 3350
     Dosage: 17 GRAM, QD
     Route: 048
  361. POLYETHYLENE GLYCOL 3350 [Suspect]
     Active Substance: POLYETHYLENE GLYCOL 3350
     Dosage: 3 MILLIGRAM 1 EVERY 1 WEEKS ORAL
     Route: 048
  362. SODIUM PHOSPHATE, MONOBASIC [Suspect]
     Active Substance: SODIUM PHOSPHATE, MONOBASIC
     Indication: Constipation
     Dosage: 133 MILLILITER RECTAL
     Route: 054
  363. TRESIBA [Suspect]
     Active Substance: INSULIN DEGLUDEC
     Indication: Diabetes mellitus
     Dosage: 1 DOSAGE FORM, 1 DOSE PER 1 D
     Route: 058
  364. TRESIBA [Suspect]
     Active Substance: INSULIN DEGLUDEC
     Dosage: 1 DOSAGE FORM, ONCE
     Route: 058
  365. TRESIBA [Suspect]
     Active Substance: INSULIN DEGLUDEC
     Dosage: 1 DOSAGE FORM, 1 DOSE PER 1 D
     Route: 065
  366. TRESIBA [Suspect]
     Active Substance: INSULIN DEGLUDEC
     Dosage: UNK SC
     Route: 058
  367. OTRIVIN [Suspect]
     Active Substance: XYLOMETAZOLINE
     Indication: Dyspnoea
     Dosage: UNK
     Route: 065
  368. AMINOBENZOIC ACID [Suspect]
     Active Substance: AMINOBENZOIC ACID
     Indication: Product used for unknown indication
     Dosage: 12.5 MILLIGRAM
     Route: 065
  369. BETAMETHASONE DIPROPIONATE\CLIOQUINOL [Suspect]
     Active Substance: BETAMETHASONE DIPROPIONATE\CLIOQUINOL
     Indication: Swelling
     Dosage: UNK, 1 DOSE PER 1 D
     Route: 065
  370. MELATONIN [Suspect]
     Active Substance: MELATONIN
     Indication: Sleep disorder therapy
     Dosage: 3 MILLIGRAM ORAL
     Route: 048
  371. MELATONIN [Suspect]
     Active Substance: MELATONIN
     Dosage: UNK
     Route: 048
  372. MELATONIN [Suspect]
     Active Substance: MELATONIN
     Dosage: 3 MILLIGRAM, QD
     Route: 065
  373. PREVACID [Suspect]
     Active Substance: LANSOPRAZOLE
     Indication: Antacid therapy
     Dosage: UNK
     Route: 048
  374. PREVACID [Suspect]
     Active Substance: LANSOPRAZOLE
     Dosage: 30 MILLIGRAM, 1 DOSE PER 1D
     Route: 048
  375. LYPRESSIN [Suspect]
     Active Substance: LYPRESSIN
     Indication: Drug therapy
     Dosage: UNK IV
     Route: 042
  376. LYPRESSIN [Suspect]
     Active Substance: LYPRESSIN
     Dosage: 250 MILLILITER
     Route: 065
  377. LYPRESSIN [Suspect]
     Active Substance: LYPRESSIN
     Dosage: 50 MILLILITER
     Route: 042
  378. CALCITRIOL [Suspect]
     Active Substance: CALCITRIOL
     Indication: Vitamin D abnormal
     Dosage: 0.25 MICROGRAM, QD
     Route: 048
  379. CALCITRIOL [Suspect]
     Active Substance: CALCITRIOL
     Indication: Hypovitaminosis
     Dosage: 500 MILLIGRAM, 1 EVERY 8 HOURS
     Route: 048
  380. CALCITRIOL [Suspect]
     Active Substance: CALCITRIOL
     Dosage: UNK
     Route: 065
  381. CALCITRIOL [Suspect]
     Active Substance: CALCITRIOL
     Dosage: UNK UNK, 1 DOSE PER 1 D
     Route: 065
  382. POLYETHYLENE GLYCOL 4000 [Suspect]
     Active Substance: POLYETHYLENE GLYCOL 4000
     Indication: Constipation
     Dosage: 17 MILLIGRAM
     Route: 048
  383. POLYETHYLENE GLYCOL 4000 [Suspect]
     Active Substance: POLYETHYLENE GLYCOL 4000
     Dosage: UNK
     Route: 048
  384. POLYETHYLENE GLYCOL 4000 [Suspect]
     Active Substance: POLYETHYLENE GLYCOL 4000
     Dosage: UNK
     Route: 065
  385. IPRATROPIUM BROMIDE\XYLOMETAZOLINE HYDROCHLORIDE [Suspect]
     Active Substance: IPRATROPIUM BROMIDE\XYLOMETAZOLINE HYDROCHLORIDE
     Indication: Dyspnoea
     Dosage: UNK
     Route: 065
  386. IPRATROPIUM BROMIDE\XYLOMETAZOLINE HYDROCHLORIDE [Suspect]
     Active Substance: IPRATROPIUM BROMIDE\XYLOMETAZOLINE HYDROCHLORIDE
     Indication: Sleep disorder therapy
     Dosage: UNK, NASAL SPRAY, SOLUTION
     Route: 055
  387. IPRATROPIUM BROMIDE\XYLOMETAZOLINE HYDROCHLORIDE [Suspect]
     Active Substance: IPRATROPIUM BROMIDE\XYLOMETAZOLINE HYDROCHLORIDE
     Dosage: 1 DOSAGE FORM, 1 DOSE PER 1 D
     Route: 065
  388. OSELTAMIVIR PHOSPHATE [Suspect]
     Active Substance: OSELTAMIVIR PHOSPHATE
     Indication: Product used for unknown indication
     Dosage: 133 MILLILITER
     Route: 054
  389. OSELTAMIVIR PHOSPHATE [Suspect]
     Active Substance: OSELTAMIVIR PHOSPHATE
     Dosage: 12.5 GRAM
     Route: 065
  390. OSELTAMIVIR PHOSPHATE [Suspect]
     Active Substance: OSELTAMIVIR PHOSPHATE
     Dosage: UNK
     Route: 065
  391. OSELTAMIVIR PHOSPHATE [Suspect]
     Active Substance: OSELTAMIVIR PHOSPHATE
     Dosage: UNK
     Route: 054
  392. OSELTAMIVIR PHOSPHATE [Suspect]
     Active Substance: OSELTAMIVIR PHOSPHATE
     Dosage: 12.5 GRAM UNKNOWN
     Route: 042
  393. DIETARY SUPPLEMENT [Suspect]
     Active Substance: DIETARY SUPPLEMENT
     Indication: Vitamin supplementation
     Dosage: UNK
     Route: 065
  394. DIETARY SUPPLEMENT [Suspect]
     Active Substance: DIETARY SUPPLEMENT
     Dosage: 5 MILLIGRAM
     Route: 065
  395. ACETAMINOPHEN [Suspect]
     Active Substance: ACETAMINOPHEN
     Indication: Analgesic therapy
     Dosage: 650 MILLIGRAM, QD ACETAMINOPHEN
     Route: 065
  396. NOREPINEPHRINE [Suspect]
     Active Substance: NOREPINEPHRINE\NOREPINEPHRINE BITARTRATE
     Indication: Stress
     Dosage: 3 MILLIGRAM, LIQUID
     Route: 065
  397. NOREPINEPHRINE [Suspect]
     Active Substance: NOREPINEPHRINE\NOREPINEPHRINE BITARTRATE
     Dosage: UNK, LIQUID
     Route: 042
  398. NOREPINEPHRINE [Suspect]
     Active Substance: NOREPINEPHRINE\NOREPINEPHRINE BITARTRATE
     Dosage: 3 MILLIGRAM, 1 EVERY 1 DAYS INTRAVENOUS, LIQUID
     Route: 042
  399. NOREPINEPHRINE [Suspect]
     Active Substance: NOREPINEPHRINE\NOREPINEPHRINE BITARTRATE
     Dosage: 1 DOSAGE FORM 1 EVERY 1 DAYS INTRAVENOUS, LIQUID
     Route: 048
  400. NOREPINEPHRINE [Suspect]
     Active Substance: NOREPINEPHRINE\NOREPINEPHRINE BITARTRATE
     Dosage: 1 DOSAGE FORM 1 EVERY 1 DAYS INTRAVENOUS, LIQUID
     Route: 042
  401. NOREPINEPHRINE [Suspect]
     Active Substance: NOREPINEPHRINE\NOREPINEPHRINE BITARTRATE
     Dosage: 3 MILLIGRAM, 1 EVERY 1 DAYS INTRAVENOUS, LIQUID
     Route: 048
  402. NOREPINEPHRINE [Suspect]
     Active Substance: NOREPINEPHRINE\NOREPINEPHRINE BITARTRATE
     Dosage: 1 DOSAGE FORM, 1 EVERY 1 DAYS INTRAVENOUS, LIQUID
     Route: 065
  403. NOREPINEPHRINE [Suspect]
     Active Substance: NOREPINEPHRINE\NOREPINEPHRINE BITARTRATE
     Dosage: UNK, ONCE
     Route: 042
  404. SODIUM FERRIC GLUCONATE COMPLEX [Suspect]
     Active Substance: SODIUM FERRIC GLUCONATE COMPLEX
     Indication: Iron deficiency
     Dosage: 125 MILLIGRAM EVERY 4 WEEKS
     Route: 042
  405. SODIUM FERRIC GLUCONATE COMPLEX [Suspect]
     Active Substance: SODIUM FERRIC GLUCONATE COMPLEX
     Dosage: 4.64 MILLIGRAM, Q4W
     Route: 042
  406. AMIODARONE HYDROCHLORIDE [Suspect]
     Active Substance: AMIODARONE HYDROCHLORIDE
     Indication: Drug therapy
     Dosage: 150 MILLIGRAM, INTRAVENOUS LIQUID
     Route: 042
  407. AMIODARONE HYDROCHLORIDE [Suspect]
     Active Substance: AMIODARONE HYDROCHLORIDE
     Indication: Ventricular fibrillation
     Dosage: UNK, INTRAVENOUS LIQUID
     Route: 042
  408. AMIODARONE HYDROCHLORIDE [Suspect]
     Active Substance: AMIODARONE HYDROCHLORIDE
     Dosage: 27.78 MILLIGRAM, INTRAVENOUS LIQUID
     Route: 065
  409. AMIODARONE HYDROCHLORIDE [Suspect]
     Active Substance: AMIODARONE HYDROCHLORIDE
     Dosage: UNK,1 DOSE PER 1 D LIQUID
     Route: 042
  410. AMIODARONE HYDROCHLORIDE [Suspect]
     Active Substance: AMIODARONE HYDROCHLORIDE
     Dosage: UNK, 1 DOSE PER 1 D LIQUID
     Route: 042
  411. AMIODARONE HYDROCHLORIDE [Suspect]
     Active Substance: AMIODARONE HYDROCHLORIDE
     Dosage: 150 MILLIGRAM, QD LIQUID
     Route: 042
  412. AMIODARONE HYDROCHLORIDE [Suspect]
     Active Substance: AMIODARONE HYDROCHLORIDE
     Dosage: UNK LIQUID 1 IN 1 D
     Route: 042
  413. AMIODARONE HYDROCHLORIDE [Suspect]
     Active Substance: AMIODARONE HYDROCHLORIDE
     Dosage: 150 MILLIGRAM,1 DOSE PER 1 D LIQUID
     Route: 065
  414. AMIODARONE HYDROCHLORIDE [Suspect]
     Active Substance: AMIODARONE HYDROCHLORIDE
     Dosage: UNK INTRAVENOUS LIQUID
     Route: 065
  415. TRELEGY ELLIPTA [Suspect]
     Active Substance: FLUTICASONE FUROATE\UMECLIDINIUM BROMIDE\VILANTEROL TRIFENATATE
     Indication: Product used for unknown indication
     Dosage: UNK
     Route: 065
  416. DIPYRONE [Suspect]
     Active Substance: DIPYRONE
     Indication: Vitamin supplementation
     Dosage: UNK
     Route: 030
  417. DIPYRONE [Suspect]
     Active Substance: DIPYRONE
     Dosage: 5 MILLIGRAM 1 EVERY 1 DAY IM
     Route: 030
  418. INSULIN ASPART [Suspect]
     Active Substance: INSULIN ASPART
     Indication: Diabetes mellitus
     Dosage: UNK
     Route: 058
  419. ZINC [Suspect]
     Active Substance: ZINC
     Indication: Vitamin supplementation
     Dosage: 5 MILLIGRAM
     Route: 065
  420. FRAGMIN [Suspect]
     Active Substance: DALTEPARIN SODIUM
     Indication: Pulmonary embolism
     Dosage: 12.5 MILLILITER IV
     Route: 042
  421. FRAGMIN [Suspect]
     Active Substance: DALTEPARIN SODIUM
     Indication: Thrombosis
     Dosage: 2.5 MILLILITER, PRN
     Route: 065
  422. FRAGMIN [Suspect]
     Active Substance: DALTEPARIN SODIUM
     Dosage: 2.5 MILLILITER IV
     Route: 048
  423. FRAGMIN [Suspect]
     Active Substance: DALTEPARIN SODIUM
     Dosage: 2.5 MILLILITER, 1 EVERY 1D IV
     Route: 042
  424. FRAGMIN [Suspect]
     Active Substance: DALTEPARIN SODIUM
     Dosage: 12.5 ML
     Route: 048
  425. FRAGMIN [Suspect]
     Active Substance: DALTEPARIN SODIUM
     Dosage: 0.5 MILLILITER
     Route: 048
  426. FRAGMIN [Suspect]
     Active Substance: DALTEPARIN SODIUM
     Dosage: 12.5 MILLILITER
     Route: 042
  427. HORSE CHESTNUT [Suspect]
     Active Substance: HORSE CHESTNUT
     Indication: Constipation
     Dosage: UNK
     Route: 065
  428. HORSE CHESTNUT [Suspect]
     Active Substance: HORSE CHESTNUT
     Dosage: 17 GRAM, 1 EVERY 1 D
     Route: 065
  429. BIOTIN [Suspect]
     Active Substance: BIOTIN
     Indication: Vitamin supplementation
     Dosage: 5 MILLIGRAM, 1 DOSE PER 1 D
     Route: 042
  430. BIOTIN [Suspect]
     Active Substance: BIOTIN
     Indication: Constipation
     Dosage: UNK
     Route: 065
  431. BIOTIN [Suspect]
     Active Substance: BIOTIN
     Dosage: 17 MILLIGRAM, 1 DOSE PER 1 D
     Route: 042
  432. BIOTIN [Suspect]
     Active Substance: BIOTIN
     Dosage: 5 MILLIGRAM INTRAVENOUS (5 MG,1 IN 1 D)
     Route: 042
  433. MONOFERRIC [Suspect]
     Active Substance: FERRIC DERISOMALTOSE
     Indication: Nutritional supplementation
     Dosage: 12.5 GRAM IV
     Route: 042
  434. ASIAN GINSENG [Suspect]
     Active Substance: ASIAN GINSENG
     Indication: Nutritional supplementation
     Dosage: 12.5 MILLIGRAM ORAL
     Route: 048
  435. TOCOPHEROL [Suspect]
     Active Substance: TOCOPHEROL
     Indication: Nutritional supplementation
     Dosage: 12.5 GRAM IV
     Route: 042
  436. DOBUTAMINE [Suspect]
     Active Substance: DOBUTAMINE HYDROCHLORIDE
     Indication: Cardiogenic shock
     Dosage: UNK, 1 DOSE PER 1 D
     Route: 042
  437. DOBUTAMINE [Suspect]
     Active Substance: DOBUTAMINE HYDROCHLORIDE
     Dosage: UNK, LIQUID
     Route: 042
  438. FENOTEROL HYDROBROMIDE\IPRATROPIUM BROMIDE [Suspect]
     Active Substance: FENOTEROL HYDROBROMIDE\IPRATROPIUM BROMIDE
     Indication: Dyspnoea
     Dosage: 1 DOSAGE FORM 1 EVERY 8 HOUR INHALATION USE
     Route: 055
  439. FENOTEROL HYDROBROMIDE\IPRATROPIUM BROMIDE [Suspect]
     Active Substance: FENOTEROL HYDROBROMIDE\IPRATROPIUM BROMIDE
     Dosage: 1 DOSAGE FORM 3 EVERY 1 DAYS INHALATION USE
     Route: 055
  440. FENOTEROL HYDROBROMIDE\IPRATROPIUM BROMIDE [Suspect]
     Active Substance: FENOTEROL HYDROBROMIDE\IPRATROPIUM BROMIDE
     Dosage: 4 INTERNATIONAL UNIT 1 EVERY 1 DAYS INHALATION USE
     Route: 055
  441. FENOTEROL HYDROBROMIDE\IPRATROPIUM BROMIDE [Suspect]
     Active Substance: FENOTEROL HYDROBROMIDE\IPRATROPIUM BROMIDE
     Dosage: UNK, 1 DOSE PER 1 D
     Route: 065
  442. FENOTEROL HYDROBROMIDE\IPRATROPIUM BROMIDE [Suspect]
     Active Substance: FENOTEROL HYDROBROMIDE\IPRATROPIUM BROMIDE
     Dosage: 3 DOSAGE FORM, 1 DOSE PER 1 D
     Route: 055
  443. CALCIUM CHLORIDE\DEXTROSE\POTASSIUM CHLORIDE\SODIUM CHLORIDE\SODIUM LA [Suspect]
     Active Substance: CALCIUM CHLORIDE\DEXTROSE\POTASSIUM CHLORIDE\SODIUM CHLORIDE\SODIUM LACTATE
     Indication: Product used for unknown indication
     Dosage: UNK
     Route: 065
  444. HEPARIN SODIUM [Suspect]
     Active Substance: HEPARIN SODIUM
     Indication: Anticoagulant therapy
     Dosage: 50 MILLILITER, 1 DOSE PER 1 D
     Route: 042
  445. HEPARIN SODIUM [Suspect]
     Active Substance: HEPARIN SODIUM
     Dosage: 50 MILLILITER IV
     Route: 042
  446. HEPARIN SODIUM [Suspect]
     Active Substance: HEPARIN SODIUM
     Dosage: 250 MILLILITER, 1 EVERY 1 DAYS IV
     Route: 042
  447. HEPARIN SODIUM [Suspect]
     Active Substance: HEPARIN SODIUM
     Dosage: 50 MILLILITER AS NECESSARY
     Route: 065
  448. HEPARIN SODIUM [Suspect]
     Active Substance: HEPARIN SODIUM
     Dosage: 50 MILLILITER AS REQUIRED
     Route: 042
  449. HEPARIN SODIUM [Suspect]
     Active Substance: HEPARIN SODIUM
     Dosage: 250 MILLILITER, AS REQUIRED
     Route: 042
  450. ASCORBIC ACID [Suspect]
     Active Substance: ASCORBIC ACID
     Indication: Vitamin supplementation
     Dosage: (AS NOVALAC) 5 MILLIGRAM
     Route: 042
  451. CORTISONE (HYDROCORTISONE) [Suspect]
     Active Substance: HYDROCORTISONE
     Indication: Product used for unknown indication
     Dosage: UNK
     Route: 065
  452. BISMUTH SUBNITRATE [Suspect]
     Active Substance: BISMUTH SUBNITRATE
     Indication: Constipation
     Dosage: 133 MILLIGRAM, AS REQUIRED
     Route: 054
  453. BISMUTH SUBNITRATE [Suspect]
     Active Substance: BISMUTH SUBNITRATE
     Dosage: 133 MILLIGRAM
     Route: 065
  454. BISMUTH SUBNITRATE [Suspect]
     Active Substance: BISMUTH SUBNITRATE
     Dosage: 133 MILLIGRAM, AS REQUIRED
     Route: 065
  455. BISMUTH SUBNITRATE [Suspect]
     Active Substance: BISMUTH SUBNITRATE
     Dosage: 133 MILLIGRAM, AS REQUIRED
     Route: 054
  456. STEARIC ACID [Suspect]
     Active Substance: STEARIC ACID
     Indication: Constipation
     Dosage: UNK
     Route: 065
  457. SODIUM BICARBONATE [Suspect]
     Active Substance: SODIUM BICARBONATE
     Indication: Nutritional supplementation
     Dosage: UNK
     Route: 065
  458. FISH OIL [Suspect]
     Active Substance: FISH OIL
     Indication: Nutritional supplementation
     Dosage: 12.5 GRAM
     Route: 065
  459. ALBUTEROL\IPRATROPIUM [Suspect]
     Active Substance: ALBUTEROL\IPRATROPIUM
     Indication: Dyspnoea
     Dosage: 1 DOSAGE FORM, 1  IN 1D
     Route: 055
  460. CALCIUM CHLORIDE\DEXTROSE\POTASSIUM CHLORIDE\SODIUM CHLORIDE [Suspect]
     Active Substance: CALCIUM CHLORIDE\DEXTROSE\POTASSIUM CHLORIDE\SODIUM CHLORIDE
     Indication: Nutritional supplementation
     Dosage: UNK
     Route: 065
  461. TAMIFLU [Suspect]
     Active Substance: OSELTAMIVIR PHOSPHATE
     Indication: Chronic obstructive pulmonary disease
     Dosage: 133 MILLIGRAM
     Route: 065
  462. MAGNESIUM TRISILICATE [Suspect]
     Active Substance: MAGNESIUM TRISILICATE
     Indication: Constipation
     Dosage: 133 MILLILITER
     Route: 065
  463. COUMADIN [Suspect]
     Active Substance: WARFARIN SODIUM
     Indication: Thrombosis
     Dosage: 2 GRAM, 1 DOSE PER 1 D
     Route: 048
  464. COUMADIN [Suspect]
     Active Substance: WARFARIN SODIUM
     Dosage: 2 GRAM 1 DOSE PER 1 D
     Route: 048
  465. COUMADIN [Suspect]
     Active Substance: WARFARIN SODIUM
     Dosage: 2 MILLIGRAM, 1 DOSE PER 1 D
     Route: 048
  466. COUMADIN [Suspect]
     Active Substance: WARFARIN SODIUM
     Dosage: 2 MILLILITER, 1 DOSE PER 1 D
     Route: 048
  467. COUMADIN [Suspect]
     Active Substance: WARFARIN SODIUM
     Dosage: UNK
     Route: 048
  468. VITAMINS NOS [Suspect]
     Active Substance: VITAMINS
     Indication: Nutritional supplementation
     Dosage: UNK
     Route: 042
  469. BISMUTH [Suspect]
     Active Substance: BISMUTH
     Indication: Constipation
     Dosage: UNK
     Route: 065
  470. BISMUTH [Suspect]
     Active Substance: BISMUTH
     Dosage: 133 MILLILITER, AS REQUIRED
     Route: 054
  471. FENOTEROL [Suspect]
     Active Substance: FENOTEROL
     Indication: Dyspnoea
     Dosage: UNK
     Route: 065
  472. FENOTEROL [Suspect]
     Active Substance: FENOTEROL
     Dosage: 3 DOSAGE FORM, 1 DOSE PER 1D
     Route: 065
  473. FENOTEROL [Suspect]
     Active Substance: FENOTEROL
     Dosage: 1 IN 1D
     Route: 065
  474. FENOTEROL [Suspect]
     Active Substance: FENOTEROL
     Dosage: 1 IN 1D
     Route: 050
  475. FENOTEROL [Suspect]
     Active Substance: FENOTEROL
     Dosage: 1 DOSAGE FORM, 1 DOSE PER 1D
     Route: 050
  476. FENOTEROL [Suspect]
     Active Substance: FENOTEROL
     Dosage: 3 DOSAGE FORM , 1IN IN 8 HR
     Route: 065
  477. FENOTEROL [Suspect]
     Active Substance: FENOTEROL
     Dosage: 3 DOSAGE FORM , 1IN IN 8 HR
     Route: 050
  478. SIMVASTATIN [Suspect]
     Active Substance: SIMVASTATIN
     Indication: Vitamin supplementation
     Dosage: UNK
     Route: 048
  479. SIMVASTATIN [Suspect]
     Active Substance: SIMVASTATIN
     Indication: Blood cholesterol increased
     Dosage: 40 MILLIGRAM, QD
     Route: 065
  480. SIMVASTATIN [Suspect]
     Active Substance: SIMVASTATIN
     Dosage: 40 MILLIGRAM 1 IN 1D
     Route: 048
  481. SIMVASTATIN [Suspect]
     Active Substance: SIMVASTATIN
     Dosage: 1 IN 1D
     Route: 065
  482. SIMVASTATIN [Suspect]
     Active Substance: SIMVASTATIN
     Dosage: 1 IN 1D
     Route: 048
  483. SIMVASTATIN [Suspect]
     Active Substance: SIMVASTATIN
     Dosage: 40 MILLIGRAM, 1 IN 1D
     Route: 048
  484. HYDROCORTISONE [Suspect]
     Active Substance: HYDROCORTISONE\HYDROCORTISONE ACETATE
     Indication: Angioedema
     Dosage: 100 MILLIGRAM
     Route: 051
  485. XYLOMETAZOLINE [Suspect]
     Active Substance: XYLOMETAZOLINE
     Indication: Dyspnoea
     Dosage: UNK 1 DOSE PER 1 D
     Route: 055
  486. XYLOMETAZOLINE [Suspect]
     Active Substance: XYLOMETAZOLINE
     Dosage: 1 DOSAGE FORM, 1 DOSE PER 1
     Route: 055
  487. XYLOMETAZOLINE [Suspect]
     Active Substance: XYLOMETAZOLINE
     Dosage: 1 DOSAGE FORM, 1 DOSE PER 1
     Route: 050
  488. XYLOMETAZOLINE [Suspect]
     Active Substance: XYLOMETAZOLINE
     Dosage: UNK
     Route: 055
  489. VITAMIN D NOS [Suspect]
     Active Substance: CHOLECALCIFEROL\ERGOCALCIFEROL
     Indication: Product used for unknown indication
     Dosage: UNK
     Route: 065
  490. ISOFLAVONES SOY [Suspect]
     Active Substance: ISOFLAVONES SOY
     Indication: Constipation
     Dosage: UNK
     Route: 065
  491. CALCIUM [Suspect]
     Active Substance: CALCIUM
     Indication: Product used for unknown indication
     Dosage: UNK
     Route: 065
  492. POLYETHYLENE GLYCOL\POTASSIUM CHLORIDE\SODIUM BICARBONATE [Suspect]
     Active Substance: POLYETHYLENE GLYCOL\POTASSIUM CHLORIDE\SODIUM BICARBONATE
     Indication: Constipation
     Dosage: 17 GRAM, 1 DOSE PER 1 D
     Route: 065
  493. POLYETHYLENE GLYCOL\POTASSIUM CHLORIDE\SODIUM BICARBONATE [Suspect]
     Active Substance: POLYETHYLENE GLYCOL\POTASSIUM CHLORIDE\SODIUM BICARBONATE
     Dosage: 17 GRAM
     Route: 048
  494. BREO ELLIPTA [Suspect]
     Active Substance: FLUTICASONE FUROATE\VILANTEROL TRIFENATATE
     Indication: Dyspnoea
     Dosage: UNK
     Route: 048
  495. BREO ELLIPTA [Suspect]
     Active Substance: FLUTICASONE FUROATE\VILANTEROL TRIFENATATE
     Indication: Nutritional supplementation
     Dosage: UNK
     Route: 048
  496. BREO ELLIPTA [Suspect]
     Active Substance: FLUTICASONE FUROATE\VILANTEROL TRIFENATATE
     Indication: Blood phosphorus increased
     Dosage: 1 INTERNATIONAL UNIT, 1 DOSE PER 1 D
     Route: 055
  497. BREO ELLIPTA [Suspect]
     Active Substance: FLUTICASONE FUROATE\VILANTEROL TRIFENATATE
     Dosage: 1 INTERNATIONAL UNIT, 1 DOSE PER 1 D
     Route: 048
  498. BREO ELLIPTA [Suspect]
     Active Substance: FLUTICASONE FUROATE\VILANTEROL TRIFENATATE
     Dosage: UNK
     Route: 058
  499. BUFEXAMAC [Suspect]
     Active Substance: BUFEXAMAC
     Indication: Constipation
     Dosage: UNK
     Route: 065
  500. ANHYDROUS CITRIC ACID\MAGNESIUM OXIDE\SODIUM PICOSULFATE [Suspect]
     Active Substance: ANHYDROUS CITRIC ACID\MAGNESIUM OXIDE\SODIUM PICOSULFATE
     Indication: Constipation
     Dosage: 10 MILLIGRAM
     Route: 054
  501. BETAMETHASONE DIPROPIONATE\CLIOQUINOL [Suspect]
     Active Substance: BETAMETHASONE DIPROPIONATE\CLIOQUINOL
     Indication: Swelling
     Dosage: UNK, 1 DOSE PER 1 D
     Route: 061
  502. AMLODIPINE [Suspect]
     Active Substance: AMLODIPINE BESYLATE
     Indication: Product used for unknown indication
     Dosage: UNK
     Route: 065
  503. XANTOFYL PALMITATE [Suspect]
     Active Substance: XANTOFYL PALMITATE
     Indication: Nutritional supplementation
     Dosage: UNK
     Route: 065
  504. XANTOFYL PALMITATE [Suspect]
     Active Substance: XANTOFYL PALMITATE
     Dosage: 12.5 GRAM
     Route: 042
  505. XANTOFYL PALMITATE [Suspect]
     Active Substance: XANTOFYL PALMITATE
     Dosage: 5 MILLIGRAM
     Route: 042
  506. XANTOFYL PALMITATE [Suspect]
     Active Substance: XANTOFYL PALMITATE
     Dosage: UNK
     Route: 042
  507. XANTOFYL PALMITATE [Suspect]
     Active Substance: XANTOFYL PALMITATE
     Dosage: 12.5 GRAM
     Route: 042
  508. XANTOFYL PALMITATE [Suspect]
     Active Substance: XANTOFYL PALMITATE
     Dosage: 5 MILLIGRAM 1 DOSE PER DAY
     Route: 042
  509. ALBUTEROL [Suspect]
     Active Substance: ALBUTEROL
     Indication: Chronic obstructive pulmonary disease
     Dosage: 1 DOSAGE FORM INHALATION
     Route: 055
  510. ALBUTEROL [Suspect]
     Active Substance: ALBUTEROL
     Dosage: UNK UNK, 4 DOSE PER 1 D
     Route: 065
  511. ALBUTEROL [Suspect]
     Active Substance: ALBUTEROL
     Dosage: UNK
     Route: 065
  512. ALBUTEROL [Suspect]
     Active Substance: ALBUTEROL
     Dosage: UNK UNK, 1 DOSE PER 1 D
     Route: 055
  513. ALBUTEROL [Suspect]
     Active Substance: ALBUTEROL
     Dosage: 1 DOSAGE FORM 1 EVERY 6 HOURS INHALATION
     Route: 055
  514. ALBUTEROL [Suspect]
     Active Substance: ALBUTEROL
     Dosage: 4 DOSAGE FORM, 1 DOSE PER 1 D
     Route: 055
  515. ALBUTEROL [Suspect]
     Active Substance: ALBUTEROL
     Dosage: 4 DOSAGE FORM (4 DOSAGE FORMS,1 IN 6 HR)
     Route: 055
  516. SAFFLOWER [Suspect]
     Active Substance: SAFFLOWER
     Indication: Constipation
     Dosage: 17 GRAM, 1 DOSE PER 1 D
     Route: 065
  517. SAFFLOWER [Suspect]
     Active Substance: SAFFLOWER
     Dosage: UNK
     Route: 065
  518. HERBALS\ZINC OXIDE [Suspect]
     Active Substance: HERBALS\ZINC OXIDE
     Indication: Constipation
     Dosage: UNK
     Route: 065
  519. POTASSIUM CHLORATE [Suspect]
     Active Substance: POTASSIUM CHLORATE
     Indication: Product used for unknown indication
     Dosage: UNK
     Route: 065
  520. LIDOCAINE [Suspect]
     Active Substance: LIDOCAINE
     Indication: Constipation
     Dosage: UNK
     Route: 065
  521. LIDOCAINE [Suspect]
     Active Substance: LIDOCAINE
     Indication: Ventricular fibrillation
     Dosage: 133 MILLILITER
     Route: 054
  522. MINERALS\VITAMINS [Suspect]
     Active Substance: MINERALS\VITAMINS
     Indication: Vitamin supplementation
     Dosage: 5 MILLIGRAM, 1 DOSE PER 1 D
     Route: 042
  523. MINERALS\VITAMINS [Suspect]
     Active Substance: MINERALS\VITAMINS
     Dosage: 17 GRAM, 1 DOSE PER 1 D
     Route: 042
  524. INSULIN PORK\INSULIN PURIFIED PORK [Suspect]
     Active Substance: INSULIN PORK\INSULIN PURIFIED PORK
     Indication: Diabetes mellitus
     Dosage: UNK
     Route: 065
  525. DEXTROSE\HEPARIN SODIUM [Suspect]
     Active Substance: DEXTROSE\HEPARIN SODIUM
     Indication: Anticoagulant therapy
     Dosage: 50 MILLILITER, AS NECESSARY
     Route: 065
  526. DEXTROSE\HEPARIN SODIUM [Suspect]
     Active Substance: DEXTROSE\HEPARIN SODIUM
     Dosage: 250 MILLILITER, AS NECESSARY
     Route: 042
  527. DEXTROSE\HEPARIN SODIUM [Suspect]
     Active Substance: DEXTROSE\HEPARIN SODIUM
     Dosage: 50 MILLILITER IV
     Route: 042
  528. DEXTROSE\HEPARIN SODIUM [Suspect]
     Active Substance: DEXTROSE\HEPARIN SODIUM
     Dosage: 50 MILLILITER, 1 EVERY 1 DAYS IV
     Route: 042
  529. DEXTROSE\HEPARIN SODIUM [Suspect]
     Active Substance: DEXTROSE\HEPARIN SODIUM
     Dosage: 250 MILLILITER, QD
     Route: 065
  530. DEXTROSE\HEPARIN SODIUM [Suspect]
     Active Substance: DEXTROSE\HEPARIN SODIUM
     Dosage: 250 MILLILITER, 1 EVERY 1 DAYS IV
     Route: 042
  531. FLUTICASONE FUROATE [Suspect]
     Active Substance: FLUTICASONE FUROATE
     Indication: Nutritional supplementation
     Dosage: UNK
     Route: 065
  532. ISOPROPYL MYRISTATE [Suspect]
     Active Substance: ISOPROPYL MYRISTATE
     Indication: Constipation
     Dosage: UNK
     Route: 065
  533. GLYCERYL MONOSTEARATE [Suspect]
     Active Substance: GLYCERYL MONOSTEARATE
     Indication: Constipation
     Dosage: UNK
     Route: 065
  534. POTASSIUM PERCHLORATE [Suspect]
     Active Substance: POTASSIUM PERCHLORATE
     Indication: Product used for unknown indication
     Dosage: UNK
     Route: 065
  535. POTASSIUM PERCHLORATE [Suspect]
     Active Substance: POTASSIUM PERCHLORATE
     Dosage: 17 MILLIGRAM, 1 DOSE PER 1 D
     Route: 048
  536. HERBALS\ZINC OXIDE [Suspect]
     Active Substance: HERBALS\ZINC OXIDE
     Indication: Constipation
     Dosage: UNK
     Route: 065
  537. PHENOXYETHANOL [Suspect]
     Active Substance: PHENOXYETHANOL
     Indication: Constipation
     Dosage: UNK
     Route: 065
  538. VILANTEROL [Suspect]
     Active Substance: VILANTEROL
     Indication: Dyspnoea
     Dosage: UNK
     Route: 048
  539. CALCIUM GLUCONATE [Suspect]
     Active Substance: CALCIUM GLUCONATE
     Indication: Product used for unknown indication
     Dosage: UNK
     Route: 065
  540. ALUMINUM HYDROXIDE\MAGNESIUM HYDROXIDE [Suspect]
     Active Substance: ALUMINUM HYDROXIDE\MAGNESIUM HYDROXIDE
     Indication: Constipation
     Dosage: UNK
     Route: 054
  541. CITRIC ACID [Suspect]
     Active Substance: CITRIC ACID MONOHYDRATE
     Indication: Nutritional supplementation
     Dosage: UNK
     Route: 065
  542. NATAMYCIN [Suspect]
     Active Substance: NATAMYCIN
     Indication: Bacterial infection
     Dosage: UNK
     Route: 065
  543. MALTOSE [Suspect]
     Active Substance: MALTOSE
     Indication: Nutritional supplementation
     Dosage: UNK
     Route: 042
  544. MALTOSE [Suspect]
     Active Substance: MALTOSE
     Dosage: UNK
     Route: 065
  545. MALTOSE [Suspect]
     Active Substance: MALTOSE
     Dosage: UNK
     Route: 065
  546. DEXTROSE [Suspect]
     Active Substance: DEXTROSE\DEXTROSE MONOHYDRATE
     Indication: Nutritional supplementation
     Dosage: 12.5 MILLIGRAM
     Route: 065
  547. DEXTROSE [Suspect]
     Active Substance: DEXTROSE\DEXTROSE MONOHYDRATE
     Dosage: UNK
     Route: 065
  548. DEXTROSE [Suspect]
     Active Substance: DEXTROSE\DEXTROSE MONOHYDRATE
     Dosage: 12.5 MILLIGRAM
     Route: 042
  549. DEXTROSE [Suspect]
     Active Substance: DEXTROSE\DEXTROSE MONOHYDRATE
     Dosage: 12.5 GRAM, AS REQUIRED
     Route: 042
  550. DEXTROSE [Suspect]
     Active Substance: DEXTROSE\DEXTROSE MONOHYDRATE
     Dosage: 12.5 GRAM, AS REQUIRED
     Route: 042
  551. DEXTROSE [Suspect]
     Active Substance: DEXTROSE\DEXTROSE MONOHYDRATE
     Dosage: 12.5 GRAM, 1 IN 1D
     Route: 065
  552. DEXTROSE [Suspect]
     Active Substance: DEXTROSE\DEXTROSE MONOHYDRATE
     Dosage: 12.5 MILLIGRAM, 1 DOSE PER 1 D
     Route: 065
  553. VITAMIN A PALMITATE [Suspect]
     Active Substance: VITAMIN A PALMITATE
     Indication: Constipation
     Dosage: UNK
     Route: 065
  554. CHLORAMPHENICOL PALMITATE [Suspect]
     Active Substance: CHLORAMPHENICOL PALMITATE
     Indication: Bacterial infection
     Dosage: UNK
     Route: 065
  555. NOREPINEPHRINE BITARTRATE [Suspect]
     Active Substance: NOREPINEPHRINE BITARTRATE
     Indication: Stress
     Dosage: 3 MILLIGRAM, 1 DOSE PER 1 D, LIQUID
     Route: 048
  556. NOREPINEPHRINE BITARTRATE [Suspect]
     Active Substance: NOREPINEPHRINE BITARTRATE
     Dosage: UNK
     Route: 042
  557. NOREPINEPHRINE BITARTRATE [Suspect]
     Active Substance: NOREPINEPHRINE BITARTRATE
     Dosage: UNK
     Route: 048
  558. NOREPINEPHRINE BITARTRATE [Suspect]
     Active Substance: NOREPINEPHRINE BITARTRATE
     Dosage: UNK UNK, 1 DOSE PER 1 D
     Route: 048
  559. BUFEXAMAC\LIDOCAINE HYDROCHLORIDE [Suspect]
     Active Substance: BUFEXAMAC\LIDOCAINE HYDROCHLORIDE
     Indication: Constipation
     Dosage: 133 MILLILITER
     Route: 065
  560. BUFEXAMAC\LIDOCAINE HYDROCHLORIDE [Suspect]
     Active Substance: BUFEXAMAC\LIDOCAINE HYDROCHLORIDE
     Dosage: 133 MILLILITER, AS REQUIRED
     Route: 054
  561. ERGOCALCIFEROL [Suspect]
     Active Substance: ERGOCALCIFEROL
     Indication: Product used for unknown indication
     Dosage: UNK
     Route: 065
  562. STEARYL ALCOHOL [Suspect]
     Active Substance: STEARYL ALCOHOL
     Indication: Constipation
     Dosage: UNK
     Route: 065
  563. DEXPANTHENOL [Suspect]
     Active Substance: DEXPANTHENOL
     Indication: Constipation
     Dosage: UNK
     Route: 065
  564. BETA CAROTENE [Suspect]
     Active Substance: BETA CAROTENE
     Indication: Product used for unknown indication
     Dosage: UNK
     Route: 065
  565. ALOE VERA LEAF [Suspect]
     Active Substance: ALOE VERA LEAF
     Indication: Constipation
     Dosage: 17 MILLIGRAM, 1 DOSE PER 1 D
     Route: 065
  566. ALOE VERA LEAF [Suspect]
     Active Substance: ALOE VERA LEAF
     Dosage: UNK
     Route: 065
  567. FERROUS SUCCINATE [Suspect]
     Active Substance: FERROUS SUCCINATE
     Indication: Iron deficiency
     Dosage: UNK, 1 EVERY 6 HOURS
     Route: 065
  568. MAGNESIUM OXIDE [Suspect]
     Active Substance: MAGNESIUM OXIDE
     Indication: Constipation
     Dosage: UNK
     Route: 065
  569. MAGNESIUM OXIDE [Suspect]
     Active Substance: MAGNESIUM OXIDE
     Dosage: 133 MILLILITER AS REQUIRED
     Route: 054
  570. TITANIUM [Suspect]
     Active Substance: TITANIUM
     Indication: Constipation
     Dosage: UNK
     Route: 065
  571. CHLORPHENIRAMINE MALEATE [Suspect]
     Active Substance: CHLORPHENIRAMINE MALEATE
     Indication: Thrombosis
     Dosage: UNK
     Route: 065
  572. METAMIZOLE SODIUM [Suspect]
     Active Substance: METAMIZOLE SODIUM
     Indication: Vitamin supplementation
     Dosage: 5 MILLIGRAM, 1 DOSE PER 1 D
     Route: 042
  573. METAMIZOLE SODIUM [Suspect]
     Active Substance: METAMIZOLE SODIUM
     Dosage: UNK
     Route: 065
  574. IPRATROPIUM BROMIDE [Suspect]
     Active Substance: IPRATROPIUM BROMIDE\IPRATROPIUM BROMIDE ANHYDROUS
     Indication: Dyspnoea
     Dosage: 1 DOSAGE FORM, 1 EVERY 6 HOURS
     Route: 065
  575. CAFFEINE [Suspect]
     Active Substance: CAFFEINE
     Indication: Nutritional supplementation
     Dosage: 12.5 MILLIGRAM
     Route: 048
  576. LANTHANUM CARBONATE [Suspect]
     Active Substance: LANTHANUM CARBONATE
     Indication: Hyperphosphataemia
     Dosage: AS LANTHANUM CARBONATE HYDRATE ; 500 MILLIGRAM
     Route: 048
  577. LANTHANUM CARBONATE [Suspect]
     Active Substance: LANTHANUM CARBONATE
     Indication: Blood phosphorus increased
  578. ALUMINUM HYDROXIDE\DIMETHICONE\MAGNESIUM HYDROXIDE [Suspect]
     Active Substance: ALUMINUM HYDROXIDE\DIMETHICONE\MAGNESIUM HYDROXIDE
     Indication: Constipation
     Dosage: 133 MILLILITER
     Route: 054
  579. TRISODIUM CITRATE DIHYDRATE [Suspect]
     Active Substance: TRISODIUM CITRATE DIHYDRATE
     Indication: Thrombosis
     Dosage: UNK
     Route: 065
  580. RAMIPRIL [Suspect]
     Active Substance: RAMIPRIL
     Indication: Product used for unknown indication
     Dosage: UNK
     Route: 065
  581. CHLORPHENIRAMINE [Suspect]
     Active Substance: CHLORPHENIRAMINE
     Indication: Thrombosis
     Dosage: UNK
     Route: 065
  582. CHLORPHENIRAMINE [Suspect]
     Active Substance: CHLORPHENIRAMINE
     Dosage: 2 MILLILITER, 1 DOSE PER 1D
     Route: 065
  583. SIMVASTATIN [Concomitant]
     Active Substance: SIMVASTATIN
     Indication: Blood cholesterol increased
     Dosage: 40 MILLIGRAM, QD
     Route: 048
  584. SIMVASTATIN [Concomitant]
     Active Substance: SIMVASTATIN
     Indication: Vitamin supplementation
     Dosage: 40 MILLIGRAM, QD
     Route: 048
  585. DISODIUM HYDROGEN CITRATE [Concomitant]
     Active Substance: DISODIUM HYDROGEN CITRATE
     Indication: Thrombosis
     Dosage: 2.5 ML, NECESSARY (4GM/100ML SOLUTION UNASSIGNED) ANTICOAGULANT
     Route: 065
  586. .BETA.-CAROTENE [Concomitant]
     Active Substance: .BETA.-CAROTENE
     Indication: Product used for unknown indication
     Dosage: UNK
     Route: 065
  587. RIBOFLAVIN 5^-PHOSPHATE SODIUM ANHYDROUS [Concomitant]
     Active Substance: RIBOFLAVIN 5^-PHOSPHATE SODIUM ANHYDROUS
     Indication: Product used for unknown indication
     Dosage: UNK
     Route: 065
  588. VITAMIN C [Concomitant]
     Active Substance: ASCORBIC ACID
     Indication: Constipation
     Dosage: UNK
     Route: 065
  589. SODIUM CITRATE [Concomitant]
     Active Substance: SODIUM CITRATE
     Indication: Product used for unknown indication
     Dosage: ANTICOAGULANT SODIUM CITRATE 4% W/V SOLUTION, USP FOR USE WITH APHERESIS DEVICES ONLY. NOT FOR DIREC
     Route: 065
  590. AMLODIPINE [Concomitant]
     Active Substance: AMLODIPINE BESYLATE
     Indication: Product used for unknown indication
     Dosage: UNK
     Route: 065
  591. CHOLECALCIFEROL [Concomitant]
     Active Substance: CHOLECALCIFEROL
     Indication: Product used for unknown indication
     Dosage: UNK
     Route: 065

REACTIONS (60)
  - General physical health deterioration [Fatal]
  - Abdominal distension [Fatal]
  - Ventricular fibrillation [Fatal]
  - Multiple organ dysfunction syndrome [Fatal]
  - Appendicitis [Fatal]
  - Somnolence [Fatal]
  - Nausea [Fatal]
  - Sleep disorder [Fatal]
  - Hypophosphataemia [Fatal]
  - Dry mouth [Fatal]
  - Diabetes mellitus [Fatal]
  - Chronic obstructive pulmonary disease [Fatal]
  - Dyspnoea [Fatal]
  - Blood cholesterol increased [Fatal]
  - Hyponatraemia [Fatal]
  - Swelling [Fatal]
  - Sepsis [Fatal]
  - Abdominal pain [Fatal]
  - Pulmonary embolism [Fatal]
  - Constipation [Fatal]
  - Bacterial infection [Fatal]
  - Vomiting [Fatal]
  - Neuralgia [Fatal]
  - Stress [Fatal]
  - Cardiogenic shock [Fatal]
  - Iron deficiency [Fatal]
  - Anaemia [Fatal]
  - Condition aggravated [Fatal]
  - Myasthenia gravis [Fatal]
  - Appendicolith [Fatal]
  - Drug intolerance [Fatal]
  - Ascites [Fatal]
  - Thrombosis [Fatal]
  - Gout [Fatal]
  - Hyperphosphataemia [Fatal]
  - Analgesic therapy [Fatal]
  - Drug therapy [Fatal]
  - Sleep disorder therapy [Fatal]
  - Ulcer [Fatal]
  - Intentional product misuse [Fatal]
  - Incorrect route of product administration [Fatal]
  - Off label use [Fatal]
  - Blood calcium increased [Fatal]
  - End stage renal disease [Fatal]
  - Musculoskeletal stiffness [Fatal]
  - Activated partial thromboplastin time prolonged [Fatal]
  - Blood creatinine increased [Fatal]
  - Oedema peripheral [Fatal]
  - Lower respiratory tract infection [Fatal]
  - Total lung capacity decreased [Fatal]
  - Pneumonia [Fatal]
  - Aortic stenosis [Fatal]
  - Lung opacity [Fatal]
  - Blood test abnormal [Fatal]
  - Bacteroides infection [Fatal]
  - Pleural effusion [Fatal]
  - Troponin increased [Fatal]
  - Drug ineffective [Fatal]
  - Hypertension [Fatal]
  - Drug hypersensitivity [Fatal]

NARRATIVE: CASE EVENT DATE: 20210605
